FAERS Safety Report 19131838 (Version 80)
Quarter: 2025Q4

REPORT INFORMATION
  Report Type: Spontaneous
  Country: CA (occurrence: CA)
  Receive Date: 20210413
  Receipt Date: 20251223
  Transmission Date: 20260117
  Serious: Yes (Death, Life-Threatening, Hospitalization, Other)
  Sender: PFIZER
  Company Number: CA-TAKEDA-2021TUS022093

PATIENT
  Age: 65 Year
  Sex: Male
  Weight: 79 kg

DRUGS (1027)
  1. PANTOPRAZOLE [Suspect]
     Active Substance: PANTOPRAZOLE
     Dosage: 1 DOSAGE FORM, Q12H
     Route: 065
  2. PANTOPRAZOLE [Suspect]
     Active Substance: PANTOPRAZOLE
     Dosage: 2 DOSAGE FORM, QD
     Route: 065
  3. PANTOPRAZOLE [Suspect]
     Active Substance: PANTOPRAZOLE
     Dosage: 1 DOSAGE FORM, QD
     Route: 065
  4. PANTOPRAZOLE [Suspect]
     Active Substance: PANTOPRAZOLE
     Dosage: UNK UNK, QD
     Route: 065
  5. PANTOPRAZOLE [Suspect]
     Active Substance: PANTOPRAZOLE
     Dosage: 40 MICROGRAM, Q12H
     Route: 065
  6. PANTOPRAZOLE [Suspect]
     Active Substance: PANTOPRAZOLE
     Dosage: 2 DOSAGE FORM, Q12H
     Route: 065
  7. PANTOPRAZOLE [Suspect]
     Active Substance: PANTOPRAZOLE
     Dosage: UNK, Q12H
     Route: 065
  8. PANTOPRAZOLE [Suspect]
     Active Substance: PANTOPRAZOLE
     Dosage: 1 DOSAGE FORM, Q12H
     Route: 065
  9. PANTOPRAZOLE [Suspect]
     Active Substance: PANTOPRAZOLE
     Dosage: UNK, QD
     Route: 065
  10. PANTOPRAZOLE [Suspect]
     Active Substance: PANTOPRAZOLE
     Dosage: UNK, Q12H
     Route: 065
  11. PANTOPRAZOLE [Suspect]
     Active Substance: PANTOPRAZOLE
     Dosage: UNK, QD
     Route: 065
  12. PANTOPRAZOLE [Suspect]
     Active Substance: PANTOPRAZOLE
     Dosage: UNK
     Route: 065
  13. PANTOPRAZOLE [Suspect]
     Active Substance: PANTOPRAZOLE
     Dosage: UNK
     Route: 065
  14. PANTOPRAZOLE [Suspect]
     Active Substance: PANTOPRAZOLE
     Dosage: UNK
     Route: 065
  15. PANTOPRAZOLE [Suspect]
     Active Substance: PANTOPRAZOLE
     Dosage: UNK
     Route: 065
  16. PANTOPRAZOLE [Suspect]
     Active Substance: PANTOPRAZOLE
     Dosage: 80 MICROGRAM, QD
     Route: 065
  17. PANTOPRAZOLE [Suspect]
     Active Substance: PANTOPRAZOLE
     Dosage: 1 DOSAGE FORM, Q12H
     Route: 065
  18. PANTOPRAZOLE [Suspect]
     Active Substance: PANTOPRAZOLE
     Dosage: UNK UNK, QD
     Route: 065
  19. PANTOPRAZOLE [Suspect]
     Active Substance: PANTOPRAZOLE
     Dosage: 1 DOSAGE FORM
     Route: 065
  20. PANTOPRAZOLE [Suspect]
     Active Substance: PANTOPRAZOLE
     Dosage: 2 DOSAGE FORM, QD
     Route: 065
  21. PANTOPRAZOLE [Suspect]
     Active Substance: PANTOPRAZOLE
     Dosage: UNK, BID
     Route: 065
  22. PANTOPRAZOLE [Suspect]
     Active Substance: PANTOPRAZOLE
     Dosage: UNK
     Route: 065
  23. PANTOPRAZOLE [Suspect]
     Active Substance: PANTOPRAZOLE
     Dosage: UNK
     Route: 065
  24. PANTOPRAZOLE [Suspect]
     Active Substance: PANTOPRAZOLE
     Dosage: UNK
     Route: 065
  25. PANTOPRAZOLE [Suspect]
     Active Substance: PANTOPRAZOLE
     Dosage: UNK
     Route: 065
  26. PANTOPRAZOLE [Suspect]
     Active Substance: PANTOPRAZOLE
     Dosage: 4 DOSAGE FORM, QD
     Route: 065
  27. PANTOPRAZOLE [Suspect]
     Active Substance: PANTOPRAZOLE
     Dosage: 8 DOSAGE FORM, QD
     Route: 065
  28. PANTOPRAZOLE [Suspect]
     Active Substance: PANTOPRAZOLE
     Dosage: 2 DOSAGE FORM, QD
     Route: 065
  29. PANTOPRAZOLE [Suspect]
     Active Substance: PANTOPRAZOLE
     Dosage: 2 DOSAGE FORM, QD
     Route: 065
  30. PANTOPRAZOLE [Suspect]
     Active Substance: PANTOPRAZOLE
     Dosage: 40 MICROGRAM, BID
     Route: 065
  31. PANTOPRAZOLE [Suspect]
     Active Substance: PANTOPRAZOLE
     Dosage: 40 MICROGRAM, BID
     Route: 065
  32. PANTOPRAZOLE [Suspect]
     Active Substance: PANTOPRAZOLE
     Dosage: UNK, Q12H
     Route: 065
  33. PANTOPRAZOLE [Suspect]
     Active Substance: PANTOPRAZOLE
     Dosage: UNK, BID
     Route: 065
  34. PANTOPRAZOLE [Suspect]
     Active Substance: PANTOPRAZOLE
     Dosage: 2 DOSAGE FORM, QD
     Route: 065
  35. PANTOPRAZOLE [Suspect]
     Active Substance: PANTOPRAZOLE
     Dosage: UNK, QD
     Route: 065
  36. PANTOPRAZOLE [Suspect]
     Active Substance: PANTOPRAZOLE
     Dosage: 4 DF, 2X/DAY
  37. PANTOPRAZOLE [Suspect]
     Active Substance: PANTOPRAZOLE
     Dosage: 4 DF, CYCLIC (0.5 DAYS)
  38. PANTOPRAZOLE [Suspect]
     Active Substance: PANTOPRAZOLE
     Dosage: 1 DF, 2X/DAY (EVERY 12 HOURS)
  39. PANTOPRAZOLE [Suspect]
     Active Substance: PANTOPRAZOLE
     Dosage: 80 MG, 1X/DAY
     Route: 065
  40. PANTOPRAZOLE [Suspect]
     Active Substance: PANTOPRAZOLE
     Dosage: UNK, 1X/DAY
     Route: 065
  41. PANTOPRAZOLE [Suspect]
     Active Substance: PANTOPRAZOLE
     Dosage: UNK, 1X/DAY
     Route: 065
  42. PANTOPRAZOLE [Suspect]
     Active Substance: PANTOPRAZOLE
     Dosage: UNK, 1X/DAY
     Route: 065
  43. PANTOPRAZOLE [Suspect]
     Active Substance: PANTOPRAZOLE
     Dosage: UNK, 1X/DAY
     Route: 065
  44. PANTOPRAZOLE [Suspect]
     Active Substance: PANTOPRAZOLE
     Dosage: UNK, CYCLIC
  45. PANTOPRAZOLE [Suspect]
     Active Substance: PANTOPRAZOLE
     Dosage: 4 DF, 1 EVERY .5 DAYS
     Route: 065
  46. PANTOPRAZOLE [Suspect]
     Active Substance: PANTOPRAZOLE
     Dosage: 4 DF, 1X/DAY
  47. PANTOPRAZOLE [Suspect]
     Active Substance: PANTOPRAZOLE
     Dosage: 2 DF, 2X/DAY (EVERY 12 HOURS)
  48. PANTOPRAZOLE [Suspect]
     Active Substance: PANTOPRAZOLE
     Dosage: 80 UG, 1X/DAY
  49. PANTOPRAZOLE [Suspect]
     Active Substance: PANTOPRAZOLE
     Dosage: 2 MG, 1X/DAY
  50. PANTOPRAZOLE [Suspect]
     Active Substance: PANTOPRAZOLE
     Dosage: 1 MG, 2X/DAY
  51. AZITHROMYCIN [Suspect]
     Active Substance: AZITHROMYCIN
     Dosage: UNK UNK, BID
     Route: 065
  52. AZITHROMYCIN [Suspect]
     Active Substance: AZITHROMYCIN
     Dosage: 250 MILLIGRAM, QD
     Route: 065
  53. AZITHROMYCIN [Suspect]
     Active Substance: AZITHROMYCIN
     Dosage: 2 DOSAGE FORM, QD
     Route: 065
  54. AZITHROMYCIN [Suspect]
     Active Substance: AZITHROMYCIN
     Dosage: UNK
     Route: 065
  55. AZITHROMYCIN [Suspect]
     Active Substance: AZITHROMYCIN
     Dosage: 1 DOSAGE FORM, QD
     Route: 065
  56. AZITHROMYCIN [Suspect]
     Active Substance: AZITHROMYCIN
     Dosage: 2 DOSAGE FORM
     Route: 065
  57. AZITHROMYCIN [Suspect]
     Active Substance: AZITHROMYCIN
     Dosage: 2 DOSAGE FORM, QD
     Route: 065
  58. AZITHROMYCIN [Suspect]
     Active Substance: AZITHROMYCIN
     Dosage: 250 MG, 1X/DAY
     Route: 065
  59. AZITHROMYCIN [Suspect]
     Active Substance: AZITHROMYCIN
     Dosage: 1 DOSAGE FORM, Q12H
     Route: 065
  60. AZITHROMYCIN [Suspect]
     Active Substance: AZITHROMYCIN
     Dosage: 1 DF, 2X/DAY
     Route: 065
  61. AZITHROMYCIN [Suspect]
     Active Substance: AZITHROMYCIN
     Dosage: 1 DF, 2X/DAY
     Route: 065
  62. AZITHROMYCIN [Suspect]
     Active Substance: AZITHROMYCIN
     Dosage: UNK UNK, BID
     Route: 065
  63. AZITHROMYCIN [Suspect]
     Active Substance: AZITHROMYCIN
     Dosage: UNK UNK, BID
  64. AZITHROMYCIN [Suspect]
     Active Substance: AZITHROMYCIN
     Dosage: 2 DF, 1X/DAY
  65. AZITHROMYCIN [Suspect]
     Active Substance: AZITHROMYCIN
     Dosage: 2 DF, 1X/DAY
  66. AZITHROMYCIN [Suspect]
     Active Substance: AZITHROMYCIN
     Dosage: 2 DF
  67. AZITHROMYCIN [Suspect]
     Active Substance: AZITHROMYCIN
     Dosage: 2 DF
  68. AZITHROMYCIN [Suspect]
     Active Substance: AZITHROMYCIN
     Dosage: UNK, 1X/DAY
     Route: 065
  69. AZITHROMYCIN [Suspect]
     Active Substance: AZITHROMYCIN
     Dosage: UNK, EVERY 12 HOURS
     Route: 065
  70. AZITHROMYCIN [Suspect]
     Active Substance: AZITHROMYCIN
     Dosage: UNK, 1X/DAY
     Route: 065
  71. AZITHROMYCIN [Suspect]
     Active Substance: AZITHROMYCIN
     Dosage: UNK, EVERY 24H
     Route: 065
  72. AZITHROMYCIN [Suspect]
     Active Substance: AZITHROMYCIN
     Dosage: UNK
     Route: 065
  73. AZITHROMYCIN [Suspect]
     Active Substance: AZITHROMYCIN
     Dosage: UNK, 2X/DAY
     Route: 065
  74. AZITHROMYCIN [Suspect]
     Active Substance: AZITHROMYCIN
     Dosage: 250 MG
     Route: 065
  75. AZITHROMYCIN [Suspect]
     Active Substance: AZITHROMYCIN
     Dosage: 2DF, BID
     Route: 065
  76. AZITHROMYCIN [Suspect]
     Active Substance: AZITHROMYCIN
     Dosage: 2 DF, 1X/DAY
  77. AZITHROMYCIN [Suspect]
     Active Substance: AZITHROMYCIN
     Dosage: 250 MG, 2X/DAY
  78. AZITHROMYCIN [Suspect]
     Active Substance: AZITHROMYCIN
     Dosage: 1 DF, 1X/DAY
  79. AZITHROMYCIN [Suspect]
     Active Substance: AZITHROMYCIN
     Dosage: 250 MG, 1X/DAY
  80. AZITHROMYCIN [Suspect]
     Active Substance: AZITHROMYCIN
     Dosage: 2 DF, 1X/DAY
  81. AZITHROMYCIN [Suspect]
     Active Substance: AZITHROMYCIN
     Dosage: 2 DF
  82. AZITHROMYCIN [Suspect]
     Active Substance: AZITHROMYCIN
     Dosage: 1 DF, 1X/DAY
  83. AZITHROMYCIN [Suspect]
     Active Substance: AZITHROMYCIN
     Dosage: 250 MG, 2X/DAY
  84. ELIQUIS [Suspect]
     Active Substance: APIXABAN
     Indication: Asthma
     Dosage: UNK
     Route: 065
  85. ELIQUIS [Suspect]
     Active Substance: APIXABAN
     Dosage: UNK
     Route: 065
  86. ELIQUIS [Suspect]
     Active Substance: APIXABAN
     Dosage: 750 MG, 1X/DAY
     Route: 065
  87. SPIRIVA [Suspect]
     Active Substance: TIOTROPIUM BROMIDE MONOHYDRATE
     Dosage: UNK, 1X/DAY
     Route: 065
  88. SPIRIVA [Suspect]
     Active Substance: TIOTROPIUM BROMIDE MONOHYDRATE
     Dosage: 2 DF, 1X/DAY
     Route: 065
  89. SPIRIVA [Suspect]
     Active Substance: TIOTROPIUM BROMIDE MONOHYDRATE
     Dosage: 2 DF
     Route: 065
  90. SPIRIVA [Suspect]
     Active Substance: TIOTROPIUM BROMIDE MONOHYDRATE
     Dosage: 2 DF
     Route: 065
  91. FUROSEMIDE [Suspect]
     Active Substance: FUROSEMIDE
     Dosage: 40 MILLIGRAM, QD
     Route: 065
  92. FUROSEMIDE [Suspect]
     Active Substance: FUROSEMIDE
     Dosage: 1 DOSAGE FORM, QD
     Route: 065
  93. FUROSEMIDE [Suspect]
     Active Substance: FUROSEMIDE
     Dosage: UNK
     Route: 065
  94. FUROSEMIDE [Suspect]
     Active Substance: FUROSEMIDE
     Dosage: UNK
     Route: 065
  95. FUROSEMIDE [Suspect]
     Active Substance: FUROSEMIDE
     Dosage: UNK, QD
     Route: 065
  96. FUROSEMIDE [Suspect]
     Active Substance: FUROSEMIDE
     Dosage: UNK, QD
     Route: 065
  97. FUROSEMIDE [Suspect]
     Active Substance: FUROSEMIDE
     Dosage: 2 DOSAGE FORM, QD
     Route: 065
  98. FUROSEMIDE [Suspect]
     Active Substance: FUROSEMIDE
     Dosage: 40 MILLIGRAM
     Route: 065
  99. FUROSEMIDE [Suspect]
     Active Substance: FUROSEMIDE
     Dosage: 1 DOSAGE FORM, QD
     Route: 065
  100. FUROSEMIDE [Suspect]
     Active Substance: FUROSEMIDE
     Dosage: 1 MILLIGRAM, QD
     Route: 065
  101. FUROSEMIDE [Suspect]
     Active Substance: FUROSEMIDE
     Dosage: 2 DF
     Route: 065
  102. FUROSEMIDE [Suspect]
     Active Substance: FUROSEMIDE
     Dosage: UNK, CYCLIC
  103. FUROSEMIDE [Suspect]
     Active Substance: FUROSEMIDE
     Dosage: 1 MG, 1X/DAY
     Route: 065
  104. FUROSEMIDE [Suspect]
     Active Substance: FUROSEMIDE
     Dosage: 2 MG, 1X/DAY
     Route: 065
  105. FUROSEMIDE [Suspect]
     Active Substance: FUROSEMIDE
     Dosage: 40 MILLIGRAM, QD
     Route: 065
  106. CALCIUM CARBONATE [Suspect]
     Active Substance: CALCIUM CARBONATE
     Dosage: 500 MILLIGRAM, QD
     Route: 065
  107. CALCIUM CARBONATE [Suspect]
     Active Substance: CALCIUM CARBONATE
     Dosage: 1 DOSAGE FORM, QD
     Route: 065
  108. CALCIUM CARBONATE [Suspect]
     Active Substance: CALCIUM CARBONATE
     Dosage: ALSO REPORTED AS CYCLIC
     Route: 065
  109. CALCIUM CARBONATE [Suspect]
     Active Substance: CALCIUM CARBONATE
     Dosage: 1 DOSAGE FORM, QD
     Route: 065
  110. CALCIUM CARBONATE [Suspect]
     Active Substance: CALCIUM CARBONATE
     Dosage: 2 DOSAGE FORM, QD
     Route: 065
  111. CALCIUM CARBONATE [Suspect]
     Active Substance: CALCIUM CARBONATE
     Dosage: 500 MILLIGRAM, QD
     Route: 065
  112. CALCIUM CARBONATE [Suspect]
     Active Substance: CALCIUM CARBONATE
     Dosage: UNK UNK, QD
     Route: 065
  113. CALCIUM CARBONATE [Suspect]
     Active Substance: CALCIUM CARBONATE
     Dosage: UNK UNK, QD
     Route: 065
  114. CALCIUM CARBONATE [Suspect]
     Active Substance: CALCIUM CARBONATE
     Dosage: 120 MG
     Route: 065
  115. CALCIUM CARBONATE [Suspect]
     Active Substance: CALCIUM CARBONATE
     Dosage: UNK, CYCLIC
  116. CALCIUM CARBONATE [Suspect]
     Active Substance: CALCIUM CARBONATE
     Dosage: 500 MG
     Route: 065
  117. CALCIUM CARBONATE [Suspect]
     Active Substance: CALCIUM CARBONATE
     Dosage: 1 DF, 1X/DAY
  118. CALCIUM CARBONATE [Suspect]
     Active Substance: CALCIUM CARBONATE
     Dosage: 500 MG, 1X/DAY
  119. CALCIUM CARBONATE [Suspect]
     Active Substance: CALCIUM CARBONATE
     Dosage: 1 MG, 1X/DAY
  120. LEVOFLOXACIN [Suspect]
     Active Substance: LEVOFLOXACIN
     Dosage: 750 MILLIGRAM, QD
     Route: 065
  121. LEVOFLOXACIN [Suspect]
     Active Substance: LEVOFLOXACIN
     Dosage: 3 DOSAGE FORM, QD
     Route: 065
  122. LEVOFLOXACIN [Suspect]
     Active Substance: LEVOFLOXACIN
     Dosage: 1 DOSAGE FORM, QD
     Route: 065
  123. LEVOFLOXACIN [Suspect]
     Active Substance: LEVOFLOXACIN
     Dosage: 1 DOSAGE FORM, QD
     Route: 065
  124. LEVOFLOXACIN [Suspect]
     Active Substance: LEVOFLOXACIN
     Dosage: UNK UNK, Q8HR
     Route: 065
  125. LEVOFLOXACIN [Suspect]
     Active Substance: LEVOFLOXACIN
     Dosage: UNK UNK, Q8HR
     Route: 065
  126. LEVOFLOXACIN [Suspect]
     Active Substance: LEVOFLOXACIN
     Dosage: UNK, QD
     Route: 065
  127. LEVOFLOXACIN [Suspect]
     Active Substance: LEVOFLOXACIN
     Dosage: 750 MILLIGRAM, QD
     Route: 065
  128. LEVOFLOXACIN [Suspect]
     Active Substance: LEVOFLOXACIN
     Dosage: UNK
     Route: 065
  129. LEVOFLOXACIN [Suspect]
     Active Substance: LEVOFLOXACIN
     Dosage: 750 MG
     Route: 065
  130. LEVOFLOXACIN [Suspect]
     Active Substance: LEVOFLOXACIN
     Dosage: UNK UNK, QD
     Route: 065
  131. LEVOFLOXACIN [Suspect]
     Active Substance: LEVOFLOXACIN
     Dosage: 70 MILLIGRAM
     Route: 065
  132. LEVOFLOXACIN [Suspect]
     Active Substance: LEVOFLOXACIN
     Dosage: 3 DF, 1X/DAY
     Route: 065
  133. LEVOFLOXACIN [Suspect]
     Active Substance: LEVOFLOXACIN
     Dosage: 1 DF, 2X/DAY
     Route: 065
  134. LEVOFLOXACIN [Suspect]
     Active Substance: LEVOFLOXACIN
     Dosage: 750 MG, 1X/DAY
  135. LEVOFLOXACIN [Suspect]
     Active Substance: LEVOFLOXACIN
     Dosage: UNK
     Route: 065
  136. LEVOFLOXACIN [Suspect]
     Active Substance: LEVOFLOXACIN
     Dosage: 500 MG
     Route: 065
  137. LEVOFLOXACIN [Suspect]
     Active Substance: LEVOFLOXACIN
     Dosage: 500 MG
     Route: 065
  138. LEVOFLOXACIN [Suspect]
     Active Substance: LEVOFLOXACIN
     Dosage: 750 MG, 1X/DAY
     Route: 065
  139. LEVOFLOXACIN [Suspect]
     Active Substance: LEVOFLOXACIN
     Dosage: 1 DF, 2X/DAY
     Route: 065
  140. LEVOFLOXACIN [Suspect]
     Active Substance: LEVOFLOXACIN
     Dosage: 3 DF, 1X/DAY
     Route: 065
  141. LEVOFLOXACIN [Suspect]
     Active Substance: LEVOFLOXACIN
     Dosage: 500 MG, 1X/DAY
     Route: 065
  142. LEVOFLOXACIN [Suspect]
     Active Substance: LEVOFLOXACIN
     Dosage: 500 MG
     Route: 065
  143. LEVOFLOXACIN [Suspect]
     Active Substance: LEVOFLOXACIN
     Dosage: UNK, CYCLIC
  144. LEVOFLOXACIN [Suspect]
     Active Substance: LEVOFLOXACIN
     Dosage: 2 DF, 1X/DAY
  145. LEVOFLOXACIN [Suspect]
     Active Substance: LEVOFLOXACIN
     Dosage: 750 MG, QD
     Route: 065
  146. LEVOFLOXACIN [Suspect]
     Active Substance: LEVOFLOXACIN
     Dosage: 1 DF, 1X/DAY
  147. LEVOFLOXACIN [Suspect]
     Active Substance: LEVOFLOXACIN
     Dosage: 1 DF, 2X/DAY
  148. LEVOFLOXACIN [Suspect]
     Active Substance: LEVOFLOXACIN
     Dosage: UNK, EVERY 8 HOURS
  149. PANTOPRAZOLE SODIUM [Suspect]
     Active Substance: PANTOPRAZOLE SODIUM
     Dosage: 2 DF, 2X/DAY
     Route: 065
  150. PANTOPRAZOLE SODIUM [Suspect]
     Active Substance: PANTOPRAZOLE SODIUM
     Dosage: 40 MILLIGRAM, BID
     Route: 065
  151. PANTOPRAZOLE SODIUM [Suspect]
     Active Substance: PANTOPRAZOLE SODIUM
     Dosage: UNK, Q12H
     Route: 065
  152. PANTOPRAZOLE SODIUM [Suspect]
     Active Substance: PANTOPRAZOLE SODIUM
     Dosage: UNK, BID
     Route: 065
  153. PANTOPRAZOLE SODIUM [Suspect]
     Active Substance: PANTOPRAZOLE SODIUM
     Dosage: 2 DF, 1X/DAY
     Route: 065
  154. PANTOPRAZOLE SODIUM [Suspect]
     Active Substance: PANTOPRAZOLE SODIUM
     Dosage: 2 DF, 1X/DAY
     Route: 065
  155. PANTOPRAZOLE SODIUM [Suspect]
     Active Substance: PANTOPRAZOLE SODIUM
     Dosage: UNK UNK, 1X/DAY
     Route: 065
  156. PANTOPRAZOLE SODIUM [Suspect]
     Active Substance: PANTOPRAZOLE SODIUM
     Dosage: UNK
  157. PANTOPRAZOLE SODIUM [Suspect]
     Active Substance: PANTOPRAZOLE SODIUM
     Dosage: UNK
  158. PANTOPRAZOLE SODIUM [Suspect]
     Active Substance: PANTOPRAZOLE SODIUM
     Dosage: UNK
  159. PANTOPRAZOLE SODIUM [Suspect]
     Active Substance: PANTOPRAZOLE SODIUM
     Dosage: UNK
  160. PANTOPRAZOLE SODIUM [Suspect]
     Active Substance: PANTOPRAZOLE SODIUM
     Dosage: 4 DF, 1X/DAY
  161. PANTOPRAZOLE SODIUM [Suspect]
     Active Substance: PANTOPRAZOLE SODIUM
     Dosage: 8 DF, 1X/DAY
  162. PANTOPRAZOLE SODIUM [Suspect]
     Active Substance: PANTOPRAZOLE SODIUM
     Dosage: 2 DF, 1X/DAY
  163. PANTOPRAZOLE SODIUM [Suspect]
     Active Substance: PANTOPRAZOLE SODIUM
     Dosage: 2 DF, 1X/DAY
  164. PANTOPRAZOLE SODIUM [Suspect]
     Active Substance: PANTOPRAZOLE SODIUM
     Dosage: 40.0 MICROGRAM 2X/DAY
  165. PANTOPRAZOLE SODIUM [Suspect]
     Active Substance: PANTOPRAZOLE SODIUM
     Dosage: 1 DF, 2X/DAY
  166. PANTOPRAZOLE SODIUM [Suspect]
     Active Substance: PANTOPRAZOLE SODIUM
     Dosage: 80 MG, 1X/DAY
     Route: 065
  167. PANTOPRAZOLE SODIUM [Suspect]
     Active Substance: PANTOPRAZOLE SODIUM
     Dosage: UNK, 1X/DAY
  168. PANTOPRAZOLE SODIUM [Suspect]
     Active Substance: PANTOPRAZOLE SODIUM
     Dosage: 40 UG, 2X/DAY
  169. PANTOPRAZOLE SODIUM [Suspect]
     Active Substance: PANTOPRAZOLE SODIUM
     Dosage: 2 DF, 1X/DAY (DELAYED RELEASE)
  170. PANTOPRAZOLE SODIUM [Suspect]
     Active Substance: PANTOPRAZOLE SODIUM
     Dosage: UNK, 2X/DAY
  171. PANTOPRAZOLE SODIUM [Suspect]
     Active Substance: PANTOPRAZOLE SODIUM
     Dosage: 40 MG, 2X/DAY
  172. CANDESARTAN CILEXETIL [Suspect]
     Active Substance: CANDESARTAN CILEXETIL
     Dosage: 32 MILLIGRAM, QD
     Route: 048
  173. CANDESARTAN CILEXETIL [Suspect]
     Active Substance: CANDESARTAN CILEXETIL
     Dosage: 1 DOSAGE FORM, QD
     Route: 048
  174. CANDESARTAN CILEXETIL [Suspect]
     Active Substance: CANDESARTAN CILEXETIL
     Dosage: 1 DOSAGE FORM, QD
     Route: 048
  175. CANDESARTAN CILEXETIL [Suspect]
     Active Substance: CANDESARTAN CILEXETIL
     Dosage: 1 DOSAGE FORM, QD
     Route: 048
  176. CANDESARTAN CILEXETIL [Suspect]
     Active Substance: CANDESARTAN CILEXETIL
     Dosage: 1 DOSAGE FORM, QD
     Route: 048
  177. CANDESARTAN CILEXETIL [Suspect]
     Active Substance: CANDESARTAN CILEXETIL
     Dosage: UNK
     Route: 048
  178. CANDESARTAN CILEXETIL [Suspect]
     Active Substance: CANDESARTAN CILEXETIL
     Dosage: UNK
     Route: 065
  179. CANDESARTAN CILEXETIL [Suspect]
     Active Substance: CANDESARTAN CILEXETIL
     Dosage: UNK UNK, QD
     Route: 048
  180. CANDESARTAN CILEXETIL [Suspect]
     Active Substance: CANDESARTAN CILEXETIL
     Dosage: UNK UNK, QD
     Route: 048
  181. CANDESARTAN CILEXETIL [Suspect]
     Active Substance: CANDESARTAN CILEXETIL
     Dosage: UNK UNK, QD
     Route: 048
  182. CANDESARTAN CILEXETIL [Suspect]
     Active Substance: CANDESARTAN CILEXETIL
     Dosage: UNK UNK, QD
     Route: 065
  183. CANDESARTAN CILEXETIL [Suspect]
     Active Substance: CANDESARTAN CILEXETIL
     Dosage: 500 MG, 1X/DAY
     Route: 065
  184. CANDESARTAN CILEXETIL [Suspect]
     Active Substance: CANDESARTAN CILEXETIL
     Dosage: 32 MILLIGRAM, QD
     Route: 065
  185. CANDESARTAN CILEXETIL [Suspect]
     Active Substance: CANDESARTAN CILEXETIL
     Dosage: 32 MILLIGRAM, QD
     Route: 048
  186. CANDESARTAN CILEXETIL [Suspect]
     Active Substance: CANDESARTAN CILEXETIL
     Dosage: 1 DOSAGE FORM, QD
     Route: 048
  187. CANDESARTAN CILEXETIL [Suspect]
     Active Substance: CANDESARTAN CILEXETIL
     Dosage: 1 DOSAGE FORM, QD
     Route: 048
  188. CANDESARTAN CILEXETIL [Suspect]
     Active Substance: CANDESARTAN CILEXETIL
     Dosage: UNK UNK, QD
     Route: 048
  189. CANDESARTAN CILEXETIL [Suspect]
     Active Substance: CANDESARTAN CILEXETIL
     Dosage: 1 DOSAGE FORM, QD
     Route: 048
  190. CANDESARTAN CILEXETIL [Suspect]
     Active Substance: CANDESARTAN CILEXETIL
     Dosage: UNK UNK, QD
     Route: 048
  191. CANDESARTAN CILEXETIL [Suspect]
     Active Substance: CANDESARTAN CILEXETIL
     Dosage: 52 MG, 1X/DAY
     Route: 048
  192. CANDESARTAN CILEXETIL [Suspect]
     Active Substance: CANDESARTAN CILEXETIL
     Dosage: 2 DF, 1X/DAY
  193. CANDESARTAN CILEXETIL [Suspect]
     Active Substance: CANDESARTAN CILEXETIL
     Dosage: 500 MG
     Route: 065
  194. CANDESARTAN CILEXETIL [Suspect]
     Active Substance: CANDESARTAN CILEXETIL
     Dosage: 1 DF
  195. CANDESARTAN CILEXETIL [Suspect]
     Active Substance: CANDESARTAN CILEXETIL
     Dosage: 1 DF
  196. CANDESARTAN CILEXETIL [Suspect]
     Active Substance: CANDESARTAN CILEXETIL
     Dosage: UNK, CYCLIC
  197. CANDESARTAN CILEXETIL [Suspect]
     Active Substance: CANDESARTAN CILEXETIL
     Dosage: DOSE: 4.0
  198. CANDESARTAN CILEXETIL [Suspect]
     Active Substance: CANDESARTAN CILEXETIL
     Dosage: 500 MG
     Route: 048
  199. CANDESARTAN CILEXETIL [Suspect]
     Active Substance: CANDESARTAN CILEXETIL
     Dosage: 1 DF, 1X/DAY
  200. CANDESARTAN CILEXETIL [Suspect]
     Active Substance: CANDESARTAN CILEXETIL
     Dosage: 500 MG, 1X/DAY
     Route: 048
  201. CANDESARTAN CILEXETIL [Suspect]
     Active Substance: CANDESARTAN CILEXETIL
     Dosage: 1 DF, 1X/DAY
     Route: 065
  202. CANDESARTAN CILEXETIL [Suspect]
     Active Substance: CANDESARTAN CILEXETIL
     Dosage: 30 MG, 1X/DAY
  203. CANDESARTAN CILEXETIL [Suspect]
     Active Substance: CANDESARTAN CILEXETIL
     Dosage: 100 MG
  204. CANDESARTAN CILEXETIL [Suspect]
     Active Substance: CANDESARTAN CILEXETIL
     Dosage: UNK, 2X/DAY
  205. CANDESARTAN CILEXETIL\HYDROCHLOROTHIAZIDE [Suspect]
     Active Substance: CANDESARTAN CILEXETIL\HYDROCHLOROTHIAZIDE
     Dosage: 1 DOSAGE FORM, QD
     Route: 048
  206. CANDESARTAN CILEXETIL\HYDROCHLOROTHIAZIDE [Suspect]
     Active Substance: CANDESARTAN CILEXETIL\HYDROCHLOROTHIAZIDE
     Dosage: UNK
     Route: 065
  207. CANDESARTAN CILEXETIL\HYDROCHLOROTHIAZIDE [Suspect]
     Active Substance: CANDESARTAN CILEXETIL\HYDROCHLOROTHIAZIDE
     Dosage: 32 MG, 1X/DAY
     Route: 048
  208. CANDESARTAN CILEXETIL\HYDROCHLOROTHIAZIDE [Suspect]
     Active Substance: CANDESARTAN CILEXETIL\HYDROCHLOROTHIAZIDE
     Dosage: 1 DOSAGE FORM, QD
     Route: 048
  209. CANDESARTAN CILEXETIL\HYDROCHLOROTHIAZIDE [Suspect]
     Active Substance: CANDESARTAN CILEXETIL\HYDROCHLOROTHIAZIDE
     Dosage: 1 DOSAGE FORM, QD
     Route: 048
  210. CANDESARTAN CILEXETIL\HYDROCHLOROTHIAZIDE [Suspect]
     Active Substance: CANDESARTAN CILEXETIL\HYDROCHLOROTHIAZIDE
     Dosage: UNK, QD
     Route: 065
  211. CANDESARTAN CILEXETIL\HYDROCHLOROTHIAZIDE [Suspect]
     Active Substance: CANDESARTAN CILEXETIL\HYDROCHLOROTHIAZIDE
     Dosage: UNK, 1X/DAY
     Route: 048
  212. CANDESARTAN CILEXETIL\HYDROCHLOROTHIAZIDE [Suspect]
     Active Substance: CANDESARTAN CILEXETIL\HYDROCHLOROTHIAZIDE
     Dosage: 1 DF, 1X/DAY
  213. CANDESARTAN CILEXETIL\HYDROCHLOROTHIAZIDE [Suspect]
     Active Substance: CANDESARTAN CILEXETIL\HYDROCHLOROTHIAZIDE
     Dosage: UNK
     Route: 048
  214. CANDESARTAN CILEXETIL\HYDROCHLOROTHIAZIDE [Suspect]
     Active Substance: CANDESARTAN CILEXETIL\HYDROCHLOROTHIAZIDE
     Dosage: 32 MG, 1X/DAY
     Route: 048
  215. CANDESARTAN CILEXETIL\HYDROCHLOROTHIAZIDE [Suspect]
     Active Substance: CANDESARTAN CILEXETIL\HYDROCHLOROTHIAZIDE
     Dosage: 2 DF, 2X/DAY
     Route: 048
  216. CANDESARTAN CILEXETIL\HYDROCHLOROTHIAZIDE [Suspect]
     Active Substance: CANDESARTAN CILEXETIL\HYDROCHLOROTHIAZIDE
     Dosage: 2 DF, 1X/DAY
  217. CANDESARTAN CILEXETIL\HYDROCHLOROTHIAZIDE [Suspect]
     Active Substance: CANDESARTAN CILEXETIL\HYDROCHLOROTHIAZIDE
     Dosage: 1 DF, 1X/DAY
  218. CANDESARTAN CILEXETIL\HYDROCHLOROTHIAZIDE [Suspect]
     Active Substance: CANDESARTAN CILEXETIL\HYDROCHLOROTHIAZIDE
     Dosage: 500 MG, 1X/DAY
  219. CANDESARTAN CILEXETIL\HYDROCHLOROTHIAZIDE [Suspect]
     Active Substance: CANDESARTAN CILEXETIL\HYDROCHLOROTHIAZIDE
     Dosage: 500 MG
  220. CANDESARTAN CILEXETIL\HYDROCHLOROTHIAZIDE [Suspect]
     Active Substance: CANDESARTAN CILEXETIL\HYDROCHLOROTHIAZIDE
     Dosage: 52.0 MG, 1X/DAY
     Route: 048
  221. CANDESARTAN CILEXETIL\HYDROCHLOROTHIAZIDE [Suspect]
     Active Substance: CANDESARTAN CILEXETIL\HYDROCHLOROTHIAZIDE
     Dosage: 1.0 DF, 1X/DAY
  222. CANDESARTAN CILEXETIL\HYDROCHLOROTHIAZIDE [Suspect]
     Active Substance: CANDESARTAN CILEXETIL\HYDROCHLOROTHIAZIDE
     Dosage: 32 MG
     Route: 048
  223. METFORMIN HYDROCHLORIDE [Suspect]
     Active Substance: METFORMIN HYDROCHLORIDE
     Dosage: 2 DOSAGE FORM, Q12H
     Route: 065
  224. METFORMIN HYDROCHLORIDE [Suspect]
     Active Substance: METFORMIN HYDROCHLORIDE
     Dosage: 500 MILLIGRAM, BID
     Route: 065
  225. METFORMIN HYDROCHLORIDE [Suspect]
     Active Substance: METFORMIN HYDROCHLORIDE
     Dosage: 4 DOSAGE FORM, QD
     Route: 065
  226. METFORMIN HYDROCHLORIDE [Suspect]
     Active Substance: METFORMIN HYDROCHLORIDE
     Dosage: UNK UNK, BID
     Route: 065
  227. METFORMIN HYDROCHLORIDE [Suspect]
     Active Substance: METFORMIN HYDROCHLORIDE
     Dosage: 1 DOSAGE FORM, QD
     Route: 065
  228. METFORMIN HYDROCHLORIDE [Suspect]
     Active Substance: METFORMIN HYDROCHLORIDE
     Dosage: 2 DF, 1X/DAY
     Route: 065
  229. METFORMIN HYDROCHLORIDE [Suspect]
     Active Substance: METFORMIN HYDROCHLORIDE
     Dosage: UNK, 1 EVERY 1 DAYS
     Route: 065
  230. METFORMIN HYDROCHLORIDE [Suspect]
     Active Substance: METFORMIN HYDROCHLORIDE
     Dosage: 2 DF 1 EVERY 1 DAY
     Route: 065
  231. METFORMIN HYDROCHLORIDE [Suspect]
     Active Substance: METFORMIN HYDROCHLORIDE
     Dosage: 500 MG, EVERY 12 HOURS
  232. METFORMIN HYDROCHLORIDE [Suspect]
     Active Substance: METFORMIN HYDROCHLORIDE
     Dosage: UNK, EVERY 6H
  233. METFORMIN HYDROCHLORIDE [Suspect]
     Active Substance: METFORMIN HYDROCHLORIDE
     Dosage: 1000 MILLIGRAM, QD
     Route: 065
  234. METFORMIN HYDROCHLORIDE [Suspect]
     Active Substance: METFORMIN HYDROCHLORIDE
     Dosage: UNK, CYCLIC (1 EVERY 6 HOURS)
     Route: 065
  235. METFORMIN HYDROCHLORIDE [Suspect]
     Active Substance: METFORMIN HYDROCHLORIDE
     Dosage: 2 DF EVERY 12 HOURS
  236. METFORMIN HYDROCHLORIDE [Suspect]
     Active Substance: METFORMIN HYDROCHLORIDE
     Dosage: 4 DF
  237. METFORMIN HYDROCHLORIDE [Suspect]
     Active Substance: METFORMIN HYDROCHLORIDE
     Dosage: 4 DF, 2X/DAY
  238. METFORMIN HYDROCHLORIDE [Suspect]
     Active Substance: METFORMIN HYDROCHLORIDE
     Dosage: UNK, 2X/DAY
  239. METFORMIN HYDROCHLORIDE [Suspect]
     Active Substance: METFORMIN HYDROCHLORIDE
     Dosage: UNK, 3X/DAY
  240. ALENDRONATE [Suspect]
     Active Substance: ALENDRONATE SODIUM
     Dosage: 70 MILLIGRAM, 1/WEEK
     Route: 065
  241. ALENDRONATE [Suspect]
     Active Substance: ALENDRONATE SODIUM
     Dosage: 1 DOSAGE FORM, Q3WEEKS
     Route: 065
  242. ALENDRONATE [Suspect]
     Active Substance: ALENDRONATE SODIUM
     Dosage: 1 DOSAGE FORM, 1/WEEK
     Route: 065
  243. ALENDRONATE [Suspect]
     Active Substance: ALENDRONATE SODIUM
     Dosage: 100 MILLIGRAM, QD
     Route: 065
  244. ALENDRONATE [Suspect]
     Active Substance: ALENDRONATE SODIUM
     Dosage: 70 MILLIGRAM, 1/WEEK
     Route: 065
  245. ALENDRONATE [Suspect]
     Active Substance: ALENDRONATE SODIUM
     Dosage: 1 DOSAGE FORM
     Route: 065
  246. ALENDRONATE [Suspect]
     Active Substance: ALENDRONATE SODIUM
     Dosage: 70 MILLIGRAM, QD
     Route: 065
  247. ALENDRONATE [Suspect]
     Active Substance: ALENDRONATE SODIUM
     Dosage: UNK
     Route: 065
  248. ALENDRONATE [Suspect]
     Active Substance: ALENDRONATE SODIUM
     Dosage: UNK UNK, 1/WEEK
     Route: 065
  249. ALENDRONATE [Suspect]
     Active Substance: ALENDRONATE SODIUM
     Dosage: 1 DOSAGE FORM
     Route: 065
  250. ALENDRONATE [Suspect]
     Active Substance: ALENDRONATE SODIUM
     Dosage: 70 MILLIGRAM
     Route: 065
  251. ALENDRONATE [Suspect]
     Active Substance: ALENDRONATE SODIUM
     Dosage: 1 DOSAGE FORM
     Route: 065
  252. ALENDRONATE [Suspect]
     Active Substance: ALENDRONATE SODIUM
     Dosage: 1 DOSAGE FORM
     Route: 065
  253. ALENDRONATE [Suspect]
     Active Substance: ALENDRONATE SODIUM
     Dosage: 1 DOSAGE FORM
     Route: 065
  254. ALENDRONATE [Suspect]
     Active Substance: ALENDRONATE SODIUM
     Dosage: 1 DOSAGE FORM
     Route: 065
  255. ALENDRONATE [Suspect]
     Active Substance: ALENDRONATE SODIUM
     Dosage: 1 DOSAGE FORM
     Route: 065
  256. ALENDRONATE [Suspect]
     Active Substance: ALENDRONATE SODIUM
     Dosage: 70 MILLIGRAM
     Route: 065
  257. ALENDRONATE [Suspect]
     Active Substance: ALENDRONATE SODIUM
     Dosage: 70 MILLIGRAM
     Route: 065
  258. ALENDRONATE [Suspect]
     Active Substance: ALENDRONATE SODIUM
     Dosage: 70 MILLIGRAM
     Route: 065
  259. ALENDRONATE [Suspect]
     Active Substance: ALENDRONATE SODIUM
     Dosage: UNK
     Route: 065
  260. ALENDRONATE [Suspect]
     Active Substance: ALENDRONATE SODIUM
     Dosage: 100 MG, WEEKLY
     Route: 065
  261. AZATHIOPRINE [Suspect]
     Active Substance: AZATHIOPRINE
     Dosage: 1 DF, 1X/DAY
     Route: 042
  262. AZATHIOPRINE [Suspect]
     Active Substance: AZATHIOPRINE
     Dosage: 1 DF, 1X/DAY (POWDER FOR SOLUTION INTRAVENOUS)
     Route: 050
  263. AZATHIOPRINE [Suspect]
     Active Substance: AZATHIOPRINE
     Dosage: UNK (POWDER FOR SOLUTION INTRAVENOUS)
  264. AZATHIOPRINE [Suspect]
     Active Substance: AZATHIOPRINE
     Dosage: 50 MG (POWDER FOR SOLUTION INTRAVENOUS)
     Route: 048
  265. AZATHIOPRINE [Suspect]
     Active Substance: AZATHIOPRINE
     Dosage: 100 MG (POWDER FOR SOLUTION INTRAVENOUS)
     Route: 042
  266. AZATHIOPRINE [Suspect]
     Active Substance: AZATHIOPRINE
     Dosage: 100 MG, 1X/DAY (POWDER FOR SOLUTION INTRAVENOUS)
  267. AZATHIOPRINE [Suspect]
     Active Substance: AZATHIOPRINE
     Dosage: 250 MG, 1X/DAY
  268. AZATHIOPRINE [Suspect]
     Active Substance: AZATHIOPRINE
     Dosage: 2 DF, 1X/DAY
  269. AZATHIOPRINE [Suspect]
     Active Substance: AZATHIOPRINE
     Dosage: UNK, CYCLIC
  270. AZATHIOPRINE [Suspect]
     Active Substance: AZATHIOPRINE
     Dosage: 50 MG, EVERY 24 H
     Route: 048
  271. AZATHIOPRINE [Suspect]
     Active Substance: AZATHIOPRINE
     Dosage: 50 MG
     Route: 048
  272. AZATHIOPRINE [Suspect]
     Active Substance: AZATHIOPRINE
     Dosage: 1 DF, EVERY 24H
  273. AZATHIOPRINE [Suspect]
     Active Substance: AZATHIOPRINE
     Dosage: UNK, EVERY 12H
  274. AZATHIOPRINE [Suspect]
     Active Substance: AZATHIOPRINE
     Dosage: 1 DF
  275. AZATHIOPRINE [Suspect]
     Active Substance: AZATHIOPRINE
     Dosage: 100 MG, 1X/DAY
     Route: 048
  276. AZATHIOPRINE [Suspect]
     Active Substance: AZATHIOPRINE
     Dosage: 100 MG
  277. AZATHIOPRINE [Suspect]
     Active Substance: AZATHIOPRINE
     Dosage: 100 MG (POWDER FOR SOLUTION INTRAVENOUS)
  278. AZATHIOPRINE [Suspect]
     Active Substance: AZATHIOPRINE
     Dosage: 1 DF, 1X/DAY (POWDER FOR SOLUTION INTRAVENOUS)
     Route: 050
  279. AZATHIOPRINE [Suspect]
     Active Substance: AZATHIOPRINE
     Dosage: UNK, 1X/DAY (POWDER FOR SOLUTION INTRAVENOUS)
  280. AZATHIOPRINE [Suspect]
     Active Substance: AZATHIOPRINE
     Dosage: 100 MG, 1X/DAY
     Route: 048
  281. AZATHIOPRINE [Suspect]
     Active Substance: AZATHIOPRINE
     Dosage: UNK
     Route: 065
  282. AZATHIOPRINE [Suspect]
     Active Substance: AZATHIOPRINE
     Dosage: UNK, 1X/DAY
  283. AZATHIOPRINE [Suspect]
     Active Substance: AZATHIOPRINE
     Dosage: 100 MG
     Route: 042
  284. BETAMETHASONE DIPROPIONATE\CLOTRIMAZOLE [Suspect]
     Active Substance: BETAMETHASONE DIPROPIONATE\CLOTRIMAZOLE
     Dosage: UNK, 0.5/1 PERCENT
     Route: 065
  285. BETAMETHASONE DIPROPIONATE\CLOTRIMAZOLE [Suspect]
     Active Substance: BETAMETHASONE DIPROPIONATE\CLOTRIMAZOLE
     Dosage: UNK
     Route: 065
  286. BETAMETHASONE DIPROPIONATE\CLOTRIMAZOLE [Suspect]
     Active Substance: BETAMETHASONE DIPROPIONATE\CLOTRIMAZOLE
     Dosage: UNK
     Route: 065
  287. BETAMETHASONE DIPROPIONATE\CLOTRIMAZOLE [Suspect]
     Active Substance: BETAMETHASONE DIPROPIONATE\CLOTRIMAZOLE
     Dosage: UNK
     Route: 065
  288. BETAMETHASONE DIPROPIONATE\CLOTRIMAZOLE [Suspect]
     Active Substance: BETAMETHASONE DIPROPIONATE\CLOTRIMAZOLE
     Dosage: UNK
     Route: 065
  289. BETAMETHASONE DIPROPIONATE\CLOTRIMAZOLE [Suspect]
     Active Substance: BETAMETHASONE DIPROPIONATE\CLOTRIMAZOLE
     Dosage: UNK
     Route: 065
  290. BETAMETHASONE DIPROPIONATE\CLOTRIMAZOLE [Suspect]
     Active Substance: BETAMETHASONE DIPROPIONATE\CLOTRIMAZOLE
     Dosage: UNK
     Route: 065
  291. BETAMETHASONE DIPROPIONATE\CLOTRIMAZOLE [Suspect]
     Active Substance: BETAMETHASONE DIPROPIONATE\CLOTRIMAZOLE
     Dosage: 6 DOSAGE REGIMEN
  292. DOMPERIDONE MALEATE [Suspect]
     Active Substance: DOMPERIDONE MALEATE
     Dosage: 10 MILLIGRAM, BID
     Route: 065
  293. DOMPERIDONE MALEATE [Suspect]
     Active Substance: DOMPERIDONE MALEATE
     Dosage: 2 DOSAGE FORM, QD
     Route: 065
  294. DOMPERIDONE MALEATE [Suspect]
     Active Substance: DOMPERIDONE MALEATE
     Dosage: UNK, BID
     Route: 065
  295. DOMPERIDONE MALEATE [Suspect]
     Active Substance: DOMPERIDONE MALEATE
     Dosage: 2 DOSAGE FORM, Q12H
     Route: 065
  296. DOMPERIDONE MALEATE [Suspect]
     Active Substance: DOMPERIDONE MALEATE
     Dosage: UNK
     Route: 065
  297. DOMPERIDONE MALEATE [Suspect]
     Active Substance: DOMPERIDONE MALEATE
     Dosage: 2 DOSAGE FORM
     Route: 065
  298. DOMPERIDONE MALEATE [Suspect]
     Active Substance: DOMPERIDONE MALEATE
     Dosage: 1 DOSAGE FORM, QD
     Route: 065
  299. DOMPERIDONE MALEATE [Suspect]
     Active Substance: DOMPERIDONE MALEATE
     Dosage: UNK UNK, QD
     Route: 065
  300. DOMPERIDONE MALEATE [Suspect]
     Active Substance: DOMPERIDONE MALEATE
     Dosage: UNK
     Route: 065
  301. DOMPERIDONE MALEATE [Suspect]
     Active Substance: DOMPERIDONE MALEATE
     Dosage: 1 DOSAGE FORM
     Route: 065
  302. DOMPERIDONE MALEATE [Suspect]
     Active Substance: DOMPERIDONE MALEATE
     Dosage: UNK UNK, Q12H
     Route: 065
  303. DOMPERIDONE MALEATE [Suspect]
     Active Substance: DOMPERIDONE MALEATE
     Dosage: UNK UNK, QD
     Route: 065
  304. DOMPERIDONE MALEATE [Suspect]
     Active Substance: DOMPERIDONE MALEATE
     Dosage: UNK UNK, QD
     Route: 065
  305. DOMPERIDONE MALEATE [Suspect]
     Active Substance: DOMPERIDONE MALEATE
     Dosage: 10 MILLIGRAM, BID (2 DF, QD)
     Route: 065
  306. DOMPERIDONE MALEATE [Suspect]
     Active Substance: DOMPERIDONE MALEATE
     Dosage: UNK UNK, Q12H
     Route: 065
  307. DOMPERIDONE MALEATE [Suspect]
     Active Substance: DOMPERIDONE MALEATE
     Dosage: UNK UNK, QD
     Route: 065
  308. DOMPERIDONE MALEATE [Suspect]
     Active Substance: DOMPERIDONE MALEATE
     Dosage: 10 MILLIGRAM, QD
     Route: 065
  309. DOMPERIDONE MALEATE [Suspect]
     Active Substance: DOMPERIDONE MALEATE
     Dosage: UNK, BID
     Route: 065
  310. DOMPERIDONE MALEATE [Suspect]
     Active Substance: DOMPERIDONE MALEATE
     Dosage: 20 MILLIGRAM, QD
     Route: 065
  311. DOMPERIDONE MALEATE [Suspect]
     Active Substance: DOMPERIDONE MALEATE
     Dosage: 4 DOSAGE FORMS
  312. DOMPERIDONE MALEATE [Suspect]
     Active Substance: DOMPERIDONE MALEATE
     Dosage: 20 MG
  313. DOMPERIDONE MALEATE [Suspect]
     Active Substance: DOMPERIDONE MALEATE
     Dosage: 10 MG
  314. DOMPERIDONE MALEATE [Suspect]
     Active Substance: DOMPERIDONE MALEATE
     Dosage: 2 DF, 2X/DAY
     Route: 065
  315. DOMPERIDONE MALEATE [Suspect]
     Active Substance: DOMPERIDONE MALEATE
     Dosage: 1 DF, 1X/DAY
     Route: 065
  316. DOMPERIDONE MALEATE [Suspect]
     Active Substance: DOMPERIDONE MALEATE
     Dosage: UNK, CYCLIC
  317. DOMPERIDONE MALEATE [Suspect]
     Active Substance: DOMPERIDONE MALEATE
     Dosage: 10 MG, EVERY 12 HOURS
  318. DOMPERIDONE MALEATE [Suspect]
     Active Substance: DOMPERIDONE MALEATE
     Dosage: 1 DF, 2X/DAY
  319. FLOMAX [Suspect]
     Active Substance: TAMSULOSIN HYDROCHLORIDE
     Dosage: 1 DOSAGE FORM, QD
     Route: 065
  320. FLOMAX [Suspect]
     Active Substance: TAMSULOSIN HYDROCHLORIDE
     Dosage: UNK
     Route: 065
  321. FLOMAX [Suspect]
     Active Substance: TAMSULOSIN HYDROCHLORIDE
     Dosage: 1 DOSAGE FORM, QD
     Route: 065
  322. FLOMAX [Suspect]
     Active Substance: TAMSULOSIN HYDROCHLORIDE
     Dosage: 1 DOSAGE FORM, 1/WEEK
     Route: 065
  323. FLOMAX [Suspect]
     Active Substance: TAMSULOSIN HYDROCHLORIDE
     Dosage: UNK UNK, QD
     Route: 065
  324. FLOMAX [Suspect]
     Active Substance: TAMSULOSIN HYDROCHLORIDE
     Dosage: UNK
     Route: 065
  325. FLOMAX [Suspect]
     Active Substance: TAMSULOSIN HYDROCHLORIDE
     Dosage: 100 MILLIGRAM, QD
     Route: 065
  326. FLOMAX [Suspect]
     Active Substance: TAMSULOSIN HYDROCHLORIDE
     Dosage: UNK UNK, QD
     Route: 065
  327. FLOMAX [Suspect]
     Active Substance: TAMSULOSIN HYDROCHLORIDE
     Dosage: UNK UNK, QD
     Route: 065
  328. FLOMAX [Suspect]
     Active Substance: TAMSULOSIN HYDROCHLORIDE
     Dosage: UNK UNK, 1/WEEK
     Route: 065
  329. FLOMAX [Suspect]
     Active Substance: TAMSULOSIN HYDROCHLORIDE
     Dosage: UNK
     Route: 065
  330. FLOMAX [Suspect]
     Active Substance: TAMSULOSIN HYDROCHLORIDE
     Dosage: 1 DF
  331. FLOMAX [Suspect]
     Active Substance: TAMSULOSIN HYDROCHLORIDE
     Dosage: 1 DF, 1X/DAY
  332. FLOMAX [Suspect]
     Active Substance: TAMSULOSIN HYDROCHLORIDE
     Dosage: 100 MILLIGRAM, QD
     Route: 065
  333. FLOMAX [Suspect]
     Active Substance: TAMSULOSIN HYDROCHLORIDE
     Dosage: 100 MILLIGRAM, QD
     Route: 065
  334. FLOMAX [Suspect]
     Active Substance: TAMSULOSIN HYDROCHLORIDE
     Dosage: 3 DF, WEEKLY
  335. GLUCAGON [Suspect]
     Active Substance: GLUCAGON
     Dosage: 1 MILLIGRAM
     Route: 065
  336. GLUCAGON [Suspect]
     Active Substance: GLUCAGON
     Dosage: 1 MILLIGRAM, QD
     Route: 065
  337. GLUCAGON [Suspect]
     Active Substance: GLUCAGON
     Dosage: 1 MILLIGRAM, QD
     Route: 065
  338. GLUCAGON [Suspect]
     Active Substance: GLUCAGON
     Dosage: UNK
     Route: 065
  339. GLUCAGON [Suspect]
     Active Substance: GLUCAGON
     Dosage: UNK
     Route: 065
  340. GLUCAGON [Suspect]
     Active Substance: GLUCAGON
     Dosage: UNK
     Route: 065
  341. GLUCAGON [Suspect]
     Active Substance: GLUCAGON
     Dosage: 1 MILLIGRAM, QD (KIT)
     Route: 065
  342. GLUCAGON [Suspect]
     Active Substance: GLUCAGON
     Dosage: 1 MILLIGRAM, QD
     Route: 065
  343. GLUCAGON [Suspect]
     Active Substance: GLUCAGON
     Dosage: 1 MILLIGRAM (KIT)
     Route: 065
  344. INSULIN GLARGINE [Suspect]
     Active Substance: INSULIN GLARGINE
     Dosage: 1 DOSAGE FORM, QD
     Route: 058
  345. INSULIN GLARGINE [Suspect]
     Active Substance: INSULIN GLARGINE
     Dosage: UNK UNK, QD
     Route: 058
  346. INSULIN GLARGINE [Suspect]
     Active Substance: INSULIN GLARGINE
     Dosage: UNK UNK, QD
     Route: 058
  347. INSULIN GLARGINE [Suspect]
     Active Substance: INSULIN GLARGINE
     Dosage: UNK
     Route: 058
  348. INSULIN GLARGINE [Suspect]
     Active Substance: INSULIN GLARGINE
     Dosage: 1 DOSAGE FORM
     Route: 065
  349. INSULIN GLARGINE [Suspect]
     Active Substance: INSULIN GLARGINE
     Dosage: 1 DOSAGE FORM, QD
     Route: 058
  350. INSULIN GLARGINE [Suspect]
     Active Substance: INSULIN GLARGINE
     Dosage: UNK UNK, QD
     Route: 065
  351. INSULIN GLARGINE [Suspect]
     Active Substance: INSULIN GLARGINE
     Dosage: 1 DOSAGE FORM
     Route: 058
  352. INSULIN GLARGINE [Suspect]
     Active Substance: INSULIN GLARGINE
     Dosage: 1 DF, 1X/DAY
     Route: 058
  353. INSULIN GLARGINE [Suspect]
     Active Substance: INSULIN GLARGINE
     Dosage: 1 DF, 1X/DAY
     Route: 058
  354. INSULIN GLARGINE [Suspect]
     Active Substance: INSULIN GLARGINE
     Dosage: 1 DF, 1X/DAY
     Route: 065
  355. INSULIN GLARGINE [Suspect]
     Active Substance: INSULIN GLARGINE
     Dosage: 100 UNIT/ML, 1X/DAY
     Route: 058
  356. MAGNESIUM OXIDE [Suspect]
     Active Substance: MAGNESIUM OXIDE
     Dosage: 420 MILLIGRAM, BID
     Route: 065
  357. MAGNESIUM OXIDE [Suspect]
     Active Substance: MAGNESIUM OXIDE
     Dosage: 2 DOSAGE FORM, QD
     Route: 065
  358. MAGNESIUM OXIDE [Suspect]
     Active Substance: MAGNESIUM OXIDE
     Dosage: 1 DOSAGE FORM, Q12H
     Route: 065
  359. MAGNESIUM OXIDE [Suspect]
     Active Substance: MAGNESIUM OXIDE
     Dosage: UNK UNK, BID
     Route: 065
  360. MAGNESIUM OXIDE [Suspect]
     Active Substance: MAGNESIUM OXIDE
     Dosage: UNK
     Route: 065
  361. MAGNESIUM OXIDE [Suspect]
     Active Substance: MAGNESIUM OXIDE
     Dosage: UNK
     Route: 065
  362. MAGNESIUM OXIDE [Suspect]
     Active Substance: MAGNESIUM OXIDE
     Dosage: UNK
     Route: 065
  363. MAGNESIUM OXIDE [Suspect]
     Active Substance: MAGNESIUM OXIDE
     Dosage: 1 DOSAGE FORM, Q12H
     Route: 065
  364. MAGNESIUM OXIDE [Suspect]
     Active Substance: MAGNESIUM OXIDE
     Dosage: 2 DOSAGE FORM, QD
     Route: 065
  365. MAGNESIUM OXIDE [Suspect]
     Active Substance: MAGNESIUM OXIDE
     Dosage: 840 MILLIGRAM, QD
     Route: 065
  366. MAGNESIUM OXIDE [Suspect]
     Active Substance: MAGNESIUM OXIDE
     Dosage: UNK UNK, QD
     Route: 065
  367. MAGNESIUM OXIDE [Suspect]
     Active Substance: MAGNESIUM OXIDE
     Dosage: UNK UNK, QD
     Route: 065
  368. MAGNESIUM OXIDE [Suspect]
     Active Substance: MAGNESIUM OXIDE
     Dosage: 840 MILLIGRAM
     Route: 065
  369. MAGNESIUM OXIDE [Suspect]
     Active Substance: MAGNESIUM OXIDE
     Dosage: 420 MG, 2X/DAY
     Route: 065
  370. MAGNESIUM OXIDE [Suspect]
     Active Substance: MAGNESIUM OXIDE
     Dosage: UNK, 1X/DAY
     Route: 065
  371. MAGNESIUM OXIDE [Suspect]
     Active Substance: MAGNESIUM OXIDE
     Dosage: UNK, 2X/DAY
     Route: 065
  372. MAGNESIUM OXIDE [Suspect]
     Active Substance: MAGNESIUM OXIDE
     Dosage: 2 DF, 1X/DAY
     Route: 065
  373. MAGNESIUM OXIDE [Suspect]
     Active Substance: MAGNESIUM OXIDE
     Dosage: 1 DF, 1X/DAY
  374. MAGNESIUM OXIDE [Suspect]
     Active Substance: MAGNESIUM OXIDE
     Dosage: 2 DF, 2X/DAY
  375. MAGNESIUM OXIDE [Suspect]
     Active Substance: MAGNESIUM OXIDE
     Dosage: UNK, CYCLIC
  376. MAGNESIUM OXIDE [Suspect]
     Active Substance: MAGNESIUM OXIDE
     Dosage: 420 MG
     Route: 065
  377. MAGNESIUM OXIDE [Suspect]
     Active Substance: MAGNESIUM OXIDE
     Dosage: 420 MG, 5XDAY
     Route: 065
  378. PREDNISONE [Suspect]
     Active Substance: PREDNISONE
     Indication: Asthma
     Dosage: 80 MILLIGRAM, QD
     Route: 065
  379. PREDNISONE [Suspect]
     Active Substance: PREDNISONE
     Dosage: 5 MILLIGRAM
     Route: 065
  380. PREDNISONE [Suspect]
     Active Substance: PREDNISONE
     Dosage: 1 DOSAGE FORM, QD
     Route: 065
  381. PREDNISONE [Suspect]
     Active Substance: PREDNISONE
     Dosage: 5 MILLIGRAM, QD
     Route: 065
  382. PREDNISONE [Suspect]
     Active Substance: PREDNISONE
     Dosage: 50 MILLILITER, QD
     Route: 065
  383. PREDNISONE [Suspect]
     Active Substance: PREDNISONE
     Dosage: 1 DOSAGE FORM, QD
     Route: 065
  384. PREDNISONE [Suspect]
     Active Substance: PREDNISONE
     Dosage: 50 MILLIGRAM
     Route: 065
  385. PREDNISONE [Suspect]
     Active Substance: PREDNISONE
     Dosage: 80 MILLILITER
     Route: 065
  386. PREDNISONE [Suspect]
     Active Substance: PREDNISONE
     Dosage: 1 DOSAGE FORM, QD
     Route: 065
  387. PREDNISONE [Suspect]
     Active Substance: PREDNISONE
     Dosage: UNK UNK, QD
     Route: 065
  388. PREDNISONE [Suspect]
     Active Substance: PREDNISONE
     Dosage: 50 MILLIGRAM, QD
     Route: 065
  389. PREDNISONE [Suspect]
     Active Substance: PREDNISONE
     Dosage: 80 MILLIGRAM
     Route: 065
  390. PREDNISONE [Suspect]
     Active Substance: PREDNISONE
     Dosage: UNK
     Route: 065
  391. PREDNISONE [Suspect]
     Active Substance: PREDNISONE
     Dosage: UNK
     Route: 065
  392. PREDNISONE [Suspect]
     Active Substance: PREDNISONE
     Dosage: 1 DOSAGE FORM, QD
     Route: 065
  393. PREDNISONE [Suspect]
     Active Substance: PREDNISONE
     Dosage: 80 MILLIGRAM
     Route: 065
  394. PREDNISONE [Suspect]
     Active Substance: PREDNISONE
     Dosage: 80 MILLIGRAM
     Route: 065
  395. PREDNISONE [Suspect]
     Active Substance: PREDNISONE
     Dosage: 10 MG, 1X/DAY
     Route: 065
  396. PREDNISONE [Suspect]
     Active Substance: PREDNISONE
     Dosage: 15 MG, 1X/DAY
     Route: 065
  397. PREDNISONE [Suspect]
     Active Substance: PREDNISONE
     Dosage: 10 MG
     Route: 065
  398. PREDNISONE [Suspect]
     Active Substance: PREDNISONE
     Dosage: 5 ML, 1X/DAY
     Route: 065
  399. PREDNISONE [Suspect]
     Active Substance: PREDNISONE
     Dosage: 50 ML, 1X/DAY
  400. PREDNISONE [Suspect]
     Active Substance: PREDNISONE
     Dosage: 15 MG
  401. PREDNISONE [Suspect]
     Active Substance: PREDNISONE
     Dosage: 10 MG
  402. PREDNISONE [Suspect]
     Active Substance: PREDNISONE
     Dosage: 5 MG
  403. ALBUTEROL [Suspect]
     Active Substance: ALBUTEROL
     Indication: Eosinophilic granulomatosis with polyangiitis
     Dosage: 100 MICROGRAM, QD
     Route: 065
  404. ALBUTEROL [Suspect]
     Active Substance: ALBUTEROL
     Dosage: UNK UNK, QD
     Route: 065
  405. ALBUTEROL [Suspect]
     Active Substance: ALBUTEROL
     Dosage: 1 DOSAGE FORM, QD (METERED-DOSE (AEROSOL))
     Route: 065
  406. ALBUTEROL [Suspect]
     Active Substance: ALBUTEROL
     Dosage: UNK
     Route: 065
  407. ALBUTEROL [Suspect]
     Active Substance: ALBUTEROL
     Dosage: 1 DF, 1X/DAY
     Route: 065
  408. ALBUTEROL [Suspect]
     Active Substance: ALBUTEROL
     Dosage: UNK (METERED-DOSE (AEROSOL))
     Route: 065
  409. ALBUTEROL [Suspect]
     Active Substance: ALBUTEROL
     Dosage: 100 UG, 1X/DAY
     Route: 055
  410. ALBUTEROL [Suspect]
     Active Substance: ALBUTEROL
     Dosage: 1 DF, 1X/DAY
     Route: 055
  411. ALBUTEROL [Suspect]
     Active Substance: ALBUTEROL
     Dosage: UNK, 1X/DAY (METERED DOSE)
  412. ALBUTEROL SULFATE [Suspect]
     Active Substance: ALBUTEROL SULFATE
     Indication: Eosinophilic granulomatosis with polyangiitis
     Dosage: UNK UNK, CYCLIC
     Route: 065
  413. ALBUTEROL SULFATE [Suspect]
     Active Substance: ALBUTEROL SULFATE
     Indication: Asthma
     Dosage: UNK
     Route: 065
  414. ALBUTEROL SULFATE [Suspect]
     Active Substance: ALBUTEROL SULFATE
     Dosage: UNK, 1X/DAY
     Route: 065
  415. ALBUTEROL SULFATE [Suspect]
     Active Substance: ALBUTEROL SULFATE
     Dosage: 1 UG, 1X/DAY
     Route: 065
  416. ALBUTEROL SULFATE [Suspect]
     Active Substance: ALBUTEROL SULFATE
     Dosage: 1 UG, 2X/DAY
     Route: 065
  417. ALBUTEROL SULFATE [Suspect]
     Active Substance: ALBUTEROL SULFATE
     Dosage: 2 DF, 1X/DAY
  418. ALBUTEROL SULFATE [Suspect]
     Active Substance: ALBUTEROL SULFATE
     Dosage: 1 DF, 1X/DAY
  419. SENNOSIDES A AND B [Suspect]
     Active Substance: SENNOSIDES A AND B
     Dosage: UNK
     Route: 048
  420. SENNOSIDES A AND B [Suspect]
     Active Substance: SENNOSIDES A AND B
     Dosage: UNK
     Route: 065
  421. SENNOSIDES A AND B [Suspect]
     Active Substance: SENNOSIDES A AND B
     Dosage: 8.6 MG
     Route: 048
  422. TRELEGY ELLIPTA [Suspect]
     Active Substance: FLUTICASONE FUROATE\UMECLIDINIUM BROMIDE\VILANTEROL TRIFENATATE
     Dosage: 1 DOSAGE FORM, QD
     Route: 065
  423. TRELEGY ELLIPTA [Suspect]
     Active Substance: FLUTICASONE FUROATE\UMECLIDINIUM BROMIDE\VILANTEROL TRIFENATATE
     Dosage: 1 DOSAGE FORM, QD
     Route: 065
  424. TRELEGY ELLIPTA [Suspect]
     Active Substance: FLUTICASONE FUROATE\UMECLIDINIUM BROMIDE\VILANTEROL TRIFENATATE
     Dosage: 750 MILLIGRAM, QD
     Route: 065
  425. TRELEGY ELLIPTA [Suspect]
     Active Substance: FLUTICASONE FUROATE\UMECLIDINIUM BROMIDE\VILANTEROL TRIFENATATE
     Dosage: UNK
     Route: 065
  426. TRELEGY ELLIPTA [Suspect]
     Active Substance: FLUTICASONE FUROATE\UMECLIDINIUM BROMIDE\VILANTEROL TRIFENATATE
     Dosage: UNK
     Route: 065
  427. TRELEGY ELLIPTA [Suspect]
     Active Substance: FLUTICASONE FUROATE\UMECLIDINIUM BROMIDE\VILANTEROL TRIFENATATE
     Dosage: UNK, 1X/DAY
     Route: 065
  428. TRELEGY ELLIPTA [Suspect]
     Active Substance: FLUTICASONE FUROATE\UMECLIDINIUM BROMIDE\VILANTEROL TRIFENATATE
     Dosage: 7 MG
     Route: 065
  429. TRELEGY ELLIPTA [Suspect]
     Active Substance: FLUTICASONE FUROATE\UMECLIDINIUM BROMIDE\VILANTEROL TRIFENATATE
     Dosage: 7 DF
  430. TRELEGY ELLIPTA [Suspect]
     Active Substance: FLUTICASONE FUROATE\UMECLIDINIUM BROMIDE\VILANTEROL TRIFENATATE
     Dosage: 1 DF
     Route: 065
  431. TRELEGY ELLIPTA [Suspect]
     Active Substance: FLUTICASONE FUROATE\UMECLIDINIUM BROMIDE\VILANTEROL TRIFENATATE
     Dosage: 7 MG, 1X/DAY INHALATION POWDER)
  432. TRELEGY ELLIPTA [Suspect]
     Active Substance: FLUTICASONE FUROATE\UMECLIDINIUM BROMIDE\VILANTEROL TRIFENATATE
     Dosage: 1 DF, 1X/DAY  (INHALATION POWDER)
  433. TRELEGY ELLIPTA [Suspect]
     Active Substance: FLUTICASONE FUROATE\UMECLIDINIUM BROMIDE\VILANTEROL TRIFENATATE
     Dosage: UNK, 1X/DAY  (INHALATION POWDER)
  434. TRELEGY ELLIPTA [Suspect]
     Active Substance: FLUTICASONE FUROATE\UMECLIDINIUM BROMIDE\VILANTEROL TRIFENATATE
     Dosage: UNK  (INHALATION POWDER)
  435. UMECLIDINIUM BROMIDE\VILANTEROL TRIFENATATE [Suspect]
     Active Substance: UMECLIDINIUM BROMIDE\VILANTEROL TRIFENATATE
     Dosage: 1 PUFF (S), QD 62.5/25 MCG
     Route: 065
  436. UMECLIDINIUM BROMIDE\VILANTEROL TRIFENATATE [Suspect]
     Active Substance: UMECLIDINIUM BROMIDE\VILANTEROL TRIFENATATE
     Dosage: 1 DOSAGE FORM, QD
     Route: 055
  437. UMECLIDINIUM BROMIDE\VILANTEROL TRIFENATATE [Suspect]
     Active Substance: UMECLIDINIUM BROMIDE\VILANTEROL TRIFENATATE
     Dosage: 1 DOSAGE FORM, QD
     Route: 065
  438. UMECLIDINIUM BROMIDE\VILANTEROL TRIFENATATE [Suspect]
     Active Substance: UMECLIDINIUM BROMIDE\VILANTEROL TRIFENATATE
     Dosage: 1 DOSAGE FORM (DOSAGE FORM: INHALATION POWDER)
     Route: 065
  439. UMECLIDINIUM BROMIDE\VILANTEROL TRIFENATATE [Suspect]
     Active Substance: UMECLIDINIUM BROMIDE\VILANTEROL TRIFENATATE
     Dosage: UNK UNK, QD (DOSAGE FORM: INHALATION POWDER)
     Route: 065
  440. UMECLIDINIUM BROMIDE\VILANTEROL TRIFENATATE [Suspect]
     Active Substance: UMECLIDINIUM BROMIDE\VILANTEROL TRIFENATATE
     Dosage: UNK
     Route: 065
  441. UMECLIDINIUM BROMIDE\VILANTEROL TRIFENATATE [Suspect]
     Active Substance: UMECLIDINIUM BROMIDE\VILANTEROL TRIFENATATE
     Dosage: UNK
     Route: 065
  442. UMECLIDINIUM BROMIDE\VILANTEROL TRIFENATATE [Suspect]
     Active Substance: UMECLIDINIUM BROMIDE\VILANTEROL TRIFENATATE
     Dosage: 7 MG
     Route: 065
  443. UMECLIDINIUM BROMIDE\VILANTEROL TRIFENATATE [Suspect]
     Active Substance: UMECLIDINIUM BROMIDE\VILANTEROL TRIFENATATE
     Dosage: 7 DF, 1X/DAY
  444. UMECLIDINIUM BROMIDE\VILANTEROL TRIFENATATE [Suspect]
     Active Substance: UMECLIDINIUM BROMIDE\VILANTEROL TRIFENATATE
     Dosage: 1 DF (INHALATION POWDER)
  445. UMECLIDINIUM BROMIDE\VILANTEROL TRIFENATATE [Suspect]
     Active Substance: UMECLIDINIUM BROMIDE\VILANTEROL TRIFENATATE
     Dosage: UNK, 1X/DAY
  446. UMECLIDINIUM BROMIDE\VILANTEROL TRIFENATATE [Suspect]
     Active Substance: UMECLIDINIUM BROMIDE\VILANTEROL TRIFENATATE
     Dosage: 1 DF, 1X/DAY
  447. UMECLIDINIUM BROMIDE\VILANTEROL TRIFENATATE [Suspect]
     Active Substance: UMECLIDINIUM BROMIDE\VILANTEROL TRIFENATATE
     Dosage: 1 DF, 1X/DAY (POWDER)
  448. UMECLIDINIUM BROMIDE\VILANTEROL TRIFENATATE [Suspect]
     Active Substance: UMECLIDINIUM BROMIDE\VILANTEROL TRIFENATATE
     Dosage: 1 EVERY 1 WEEK
  449. VITAMIN D3 [Suspect]
     Active Substance: CHOLECALCIFEROL
     Dosage: 1 DF, 1X/DAY (1 EVERY 24 HOURS)
  450. VITAMIN D3 [Suspect]
     Active Substance: CHOLECALCIFEROL
     Dosage: 120 MG
  451. INSULIN ASPART [Suspect]
     Active Substance: INSULIN ASPART
     Indication: Premenstrual syndrome
     Dosage: UNK
     Route: 065
  452. INSULIN ASPART [Suspect]
     Active Substance: INSULIN ASPART
     Dosage: UNK, QD
     Route: 058
  453. INSULIN ASPART [Suspect]
     Active Substance: INSULIN ASPART
     Dosage: UNK, QD
     Route: 058
  454. CEFUROXIME SODIUM [Suspect]
     Active Substance: CEFUROXIME SODIUM
     Dosage: 2 DOSAGE FORM, Q12H
     Route: 065
  455. CEFUROXIME SODIUM [Suspect]
     Active Substance: CEFUROXIME SODIUM
     Dosage: 500 MILLIGRAM, BID
     Route: 065
  456. CEFUROXIME SODIUM [Suspect]
     Active Substance: CEFUROXIME SODIUM
     Dosage: 1 DOSAGE FORM, QD
     Route: 065
  457. CEFUROXIME SODIUM [Suspect]
     Active Substance: CEFUROXIME SODIUM
     Dosage: 2 DOSAGE FORM, Q12H
     Route: 065
  458. CEFUROXIME SODIUM [Suspect]
     Active Substance: CEFUROXIME SODIUM
     Dosage: 2 DOSAGE FORM, QD
     Route: 065
  459. CEFUROXIME SODIUM [Suspect]
     Active Substance: CEFUROXIME SODIUM
     Dosage: 1 DOSAGE FORM, QD
     Route: 065
  460. CEFUROXIME SODIUM [Suspect]
     Active Substance: CEFUROXIME SODIUM
     Dosage: 500 MILLIGRAM
     Route: 065
  461. CEFUROXIME SODIUM [Suspect]
     Active Substance: CEFUROXIME SODIUM
     Dosage: UNK UNK, QD
     Route: 065
  462. CEFUROXIME SODIUM [Suspect]
     Active Substance: CEFUROXIME SODIUM
     Dosage: 1 DOSAGE FORM, QD
     Route: 065
  463. CEFUROXIME SODIUM [Suspect]
     Active Substance: CEFUROXIME SODIUM
     Dosage: UNK UNK, QD
     Route: 065
  464. CEFUROXIME SODIUM [Suspect]
     Active Substance: CEFUROXIME SODIUM
     Dosage: UNK UNK, BID
     Route: 065
  465. CEFUROXIME SODIUM [Suspect]
     Active Substance: CEFUROXIME SODIUM
     Dosage: 2 DOSAGE FORM, QD
     Route: 065
  466. CEFUROXIME SODIUM [Suspect]
     Active Substance: CEFUROXIME SODIUM
     Dosage: UNK, 2X/DAY
     Route: 065
  467. CEFUROXIME SODIUM [Suspect]
     Active Substance: CEFUROXIME SODIUM
     Dosage: 500 MILLIGRAM
     Route: 065
  468. CEFUROXIME SODIUM [Suspect]
     Active Substance: CEFUROXIME SODIUM
     Dosage: 1 DOSAGE FORM, QD
     Route: 065
  469. CEFUROXIME SODIUM [Suspect]
     Active Substance: CEFUROXIME SODIUM
     Dosage: 1 DOSAGE FORM, QD
     Route: 065
  470. CEFUROXIME SODIUM [Suspect]
     Active Substance: CEFUROXIME SODIUM
     Dosage: UNK UNK, QD
     Route: 065
  471. CEFUROXIME SODIUM [Suspect]
     Active Substance: CEFUROXIME SODIUM
     Dosage: 4 DOSAGE FORM, QD
     Route: 065
  472. CEFUROXIME SODIUM [Suspect]
     Active Substance: CEFUROXIME SODIUM
     Dosage: 1 DOSAGE FORM, Q12H
     Route: 065
  473. CEFUROXIME SODIUM [Suspect]
     Active Substance: CEFUROXIME SODIUM
     Dosage: 2 DOSAGE FORM, QD
     Route: 065
  474. CEFUROXIME SODIUM [Suspect]
     Active Substance: CEFUROXIME SODIUM
     Dosage: UNK UNK, BID
     Route: 065
  475. CEFUROXIME SODIUM [Suspect]
     Active Substance: CEFUROXIME SODIUM
     Dosage: UNK
     Route: 065
  476. CEFUROXIME SODIUM [Suspect]
     Active Substance: CEFUROXIME SODIUM
     Dosage: UNK
     Route: 065
  477. CEFUROXIME SODIUM [Suspect]
     Active Substance: CEFUROXIME SODIUM
     Dosage: 100 MILLIGRAM
     Route: 065
  478. CEFUROXIME SODIUM [Suspect]
     Active Substance: CEFUROXIME SODIUM
     Dosage: UNK
     Route: 065
  479. CEFUROXIME SODIUM [Suspect]
     Active Substance: CEFUROXIME SODIUM
     Dosage: UNK UNK, QD
     Route: 065
  480. CEFUROXIME SODIUM [Suspect]
     Active Substance: CEFUROXIME SODIUM
     Dosage: UNK UNK, QD
     Route: 065
  481. CEFUROXIME SODIUM [Suspect]
     Active Substance: CEFUROXIME SODIUM
     Dosage: UNK UNK, QD
     Route: 065
  482. CEFUROXIME SODIUM [Suspect]
     Active Substance: CEFUROXIME SODIUM
     Dosage: 1 DF, 2X/DAY
  483. CEFUROXIME SODIUM [Suspect]
     Active Substance: CEFUROXIME SODIUM
     Dosage: 1000 MG
     Route: 065
  484. CEFUROXIME SODIUM [Suspect]
     Active Substance: CEFUROXIME SODIUM
     Dosage: 4 MG, 1X/DAY
  485. CEFUROXIME SODIUM [Suspect]
     Active Substance: CEFUROXIME SODIUM
     Dosage: 1000 MILLIGRAM, QD
     Route: 065
  486. CEFUROXIME SODIUM [Suspect]
     Active Substance: CEFUROXIME SODIUM
     Dosage: 500 MG, CYCLIC
  487. CEFUROXIME SODIUM [Suspect]
     Active Substance: CEFUROXIME SODIUM
     Dosage: 500 MG, EVERY 12 H
     Route: 065
  488. CEFUROXIME SODIUM [Suspect]
     Active Substance: CEFUROXIME SODIUM
     Dosage: 4 DF, 1X/DAY
     Route: 065
  489. CEFUROXIME SODIUM [Suspect]
     Active Substance: CEFUROXIME SODIUM
     Dosage: UNK, 1X/DAY
     Route: 065
  490. CEFUROXIME SODIUM [Suspect]
     Active Substance: CEFUROXIME SODIUM
     Dosage: UNK, 1X/DAY
     Route: 065
  491. CEFUROXIME SODIUM [Suspect]
     Active Substance: CEFUROXIME SODIUM
     Dosage: UNK, 2X/DAY
     Route: 065
  492. CEFUROXIME SODIUM [Suspect]
     Active Substance: CEFUROXIME SODIUM
     Dosage: UNK
     Route: 065
  493. CEFUROXIME SODIUM [Suspect]
     Active Substance: CEFUROXIME SODIUM
     Dosage: 100 MG
     Route: 065
  494. CEFUROXIME SODIUM [Suspect]
     Active Substance: CEFUROXIME SODIUM
     Dosage: 500 MG
     Route: 065
  495. CEFUROXIME SODIUM [Suspect]
     Active Substance: CEFUROXIME SODIUM
     Dosage: 500 MG
     Route: 065
  496. CEFUROXIME SODIUM [Suspect]
     Active Substance: CEFUROXIME SODIUM
     Dosage: 2 DF, 1X/DAY
     Route: 065
  497. CEFUROXIME SODIUM [Suspect]
     Active Substance: CEFUROXIME SODIUM
     Dosage: 2 DF, 1X/DAY
  498. CEFUROXIME SODIUM [Suspect]
     Active Substance: CEFUROXIME SODIUM
     Dosage: 4 DF, 1X/DAY
  499. CEFUROXIME SODIUM [Suspect]
     Active Substance: CEFUROXIME SODIUM
     Dosage: 1000 MG
  500. CEFUROXIME SODIUM [Suspect]
     Active Substance: CEFUROXIME SODIUM
     Dosage: 1 DF, 1X/DAY
  501. CEFUROXIME SODIUM [Suspect]
     Active Substance: CEFUROXIME SODIUM
     Dosage: 500 MG, QD
     Route: 065
  502. CEFUROXIME SODIUM [Suspect]
     Active Substance: CEFUROXIME SODIUM
     Dosage: 2 DF, 2X/DAY
  503. CEFUROXIME SODIUM [Suspect]
     Active Substance: CEFUROXIME SODIUM
     Dosage: 2 DF, 1X/DAY
  504. ERGOCALCIFEROL [Suspect]
     Active Substance: ERGOCALCIFEROL
     Dosage: UNK
     Route: 065
  505. ERGOCALCIFEROL [Suspect]
     Active Substance: ERGOCALCIFEROL
     Dosage: UNK
     Route: 065
  506. ERGOCALCIFEROL [Suspect]
     Active Substance: ERGOCALCIFEROL
     Dosage: 20.0 MILLIGRAM
     Route: 065
  507. CALCIUM SENNOSIDES [Suspect]
     Active Substance: SENNOSIDES
     Dosage: UNK
     Route: 065
  508. CALCIUM SENNOSIDES [Suspect]
     Active Substance: SENNOSIDES
     Dosage: UNK
     Route: 065
  509. CALCIUM SENNOSIDES [Suspect]
     Active Substance: SENNOSIDES
     Dosage: UNK
     Route: 065
  510. TAMSULOSIN [Suspect]
     Active Substance: TAMSULOSIN
     Dosage: 1 DOSAGE FORM, QD
     Route: 065
  511. TAMSULOSIN [Suspect]
     Active Substance: TAMSULOSIN
     Dosage: 1 DOSAGE FORM
     Route: 065
  512. TAMSULOSIN [Suspect]
     Active Substance: TAMSULOSIN
     Dosage: 1 DOSAGE FORM
     Route: 065
  513. TAMSULOSIN [Suspect]
     Active Substance: TAMSULOSIN
     Dosage: UNK UNK, QD
     Route: 065
  514. TAMSULOSIN [Suspect]
     Active Substance: TAMSULOSIN
     Dosage: UNK
  515. TAMSULOSIN [Suspect]
     Active Substance: TAMSULOSIN
     Dosage: UNK
     Route: 065
  516. TAMSULOSIN [Suspect]
     Active Substance: TAMSULOSIN
     Dosage: 100 MG, 2X/DAY
     Route: 065
  517. TAMSULOSIN [Suspect]
     Active Substance: TAMSULOSIN
     Dosage: 2 MG, 1X/DAY
     Route: 065
  518. TAMSULOSIN [Suspect]
     Active Substance: TAMSULOSIN
     Dosage: 1 EVERY 12 HOURS
     Route: 065
  519. TAMSULOSIN [Suspect]
     Active Substance: TAMSULOSIN
     Dosage: 7 MG
  520. TAMSULOSIN [Suspect]
     Active Substance: TAMSULOSIN
     Dosage: 1 DF, 1X/DAY
  521. TAMSULOSIN [Suspect]
     Active Substance: TAMSULOSIN
     Dosage: 1 DF, 1X/DAY
  522. TAMSULOSIN [Suspect]
     Active Substance: TAMSULOSIN
     Dosage: 1 DF, 1X/DAY
  523. TAMSULOSIN [Suspect]
     Active Substance: TAMSULOSIN
     Dosage: 1 DF, 1X/DAY
  524. TAMSULOSIN [Suspect]
     Active Substance: TAMSULOSIN
     Dosage: 1 DF, 2X/DAY
     Route: 065
  525. TAMSULOSIN [Suspect]
     Active Substance: TAMSULOSIN
     Dosage: 100 MG, 1X/DAY
     Route: 065
  526. TAMSULOSIN [Suspect]
     Active Substance: TAMSULOSIN
     Dosage: 7 MG, 2X/DAY
  527. TAMSULOSIN [Suspect]
     Active Substance: TAMSULOSIN
     Dosage: 1 MG, 1X/DAY
  528. TAMSULOSIN [Suspect]
     Active Substance: TAMSULOSIN
     Dosage: 1 MG, 2X/DAY
  529. TAMSULOSIN [Suspect]
     Active Substance: TAMSULOSIN
     Dosage: 1 DF, QD
     Route: 065
  530. TAMSULOSIN [Suspect]
     Active Substance: TAMSULOSIN
     Dosage: 100 MG, WEEKLY
  531. TAMSULOSIN [Suspect]
     Active Substance: TAMSULOSIN
     Dosage: UNK, 2X/DAY
  532. CLOTRIMAZOLE [Suspect]
     Active Substance: CLOTRIMAZOLE
     Dosage: UNK
     Route: 065
  533. CLOTRIMAZOLE [Suspect]
     Active Substance: CLOTRIMAZOLE
     Dosage: 1 DF, 1X/DAY
     Route: 065
  534. CLOTRIMAZOLE [Suspect]
     Active Substance: CLOTRIMAZOLE
     Dosage: 1 DF, 1X/DAY
  535. CLOTRIMAZOLE [Suspect]
     Active Substance: CLOTRIMAZOLE
     Dosage: 1 DF
     Route: 065
  536. CLOTRIMAZOLE [Suspect]
     Active Substance: CLOTRIMAZOLE
     Dosage: 1 DF, 1X/DAY
  537. CLOTRIMAZOLE [Suspect]
     Active Substance: CLOTRIMAZOLE
     Dosage: 1 DF, 1X/DAY
  538. ALENDRONATE SODIUM [Suspect]
     Active Substance: ALENDRONATE SODIUM
     Dosage: 1 DOSAGE FORM, 1/WEEK
     Route: 065
  539. ALENDRONATE SODIUM [Suspect]
     Active Substance: ALENDRONATE SODIUM
     Dosage: 100 MILLIGRAM, QD
     Route: 065
  540. ALENDRONATE SODIUM [Suspect]
     Active Substance: ALENDRONATE SODIUM
     Dosage: 70 MILLIGRAM, 1/WEEK
     Route: 065
  541. ALENDRONATE SODIUM [Suspect]
     Active Substance: ALENDRONATE SODIUM
     Dosage: 1 DOSAGE FORM, QD
     Route: 065
  542. ALENDRONATE SODIUM [Suspect]
     Active Substance: ALENDRONATE SODIUM
     Dosage: 70 MILLIGRAM CYCLICAL
  543. ALENDRONATE SODIUM [Suspect]
     Active Substance: ALENDRONATE SODIUM
     Dosage: UNK, WEEKLY
     Route: 065
  544. ALENDRONATE SODIUM [Suspect]
     Active Substance: ALENDRONATE SODIUM
     Dosage: 70 MILLIGRAM
     Route: 065
  545. ALENDRONATE SODIUM [Suspect]
     Active Substance: ALENDRONATE SODIUM
     Dosage: 100 MG, WEEKLY
     Route: 065
  546. ALENDRONATE SODIUM [Suspect]
     Active Substance: ALENDRONATE SODIUM
     Dosage: 70 MG, 1X/DAY
     Route: 065
  547. ALENDRONATE SODIUM [Suspect]
     Active Substance: ALENDRONATE SODIUM
     Dosage: 1 DF, EVERY 3 WEEKS
     Route: 065
  548. ALENDRONATE SODIUM [Suspect]
     Active Substance: ALENDRONATE SODIUM
     Dosage: 1 DF, CYCLIC
  549. ALENDRONATE SODIUM [Suspect]
     Active Substance: ALENDRONATE SODIUM
     Dosage: 70 MG, 1 EVERY 1 WEEK
  550. ALENDRONATE SODIUM [Suspect]
     Active Substance: ALENDRONATE SODIUM
     Dosage: 1 DF
  551. ALENDRONATE SODIUM [Suspect]
     Active Substance: ALENDRONATE SODIUM
     Dosage: UNK, 1X/DAY (INHALATION)
     Route: 055
  552. ALENDRONATE SODIUM [Suspect]
     Active Substance: ALENDRONATE SODIUM
     Dosage: 70 MG, WEEKLY
  553. ALENDRONATE SODIUM [Suspect]
     Active Substance: ALENDRONATE SODIUM
     Dosage: 1 DF
  554. ALENDRONATE SODIUM [Suspect]
     Active Substance: ALENDRONATE SODIUM
     Dosage: 1 DF
  555. ALENDRONATE SODIUM [Suspect]
     Active Substance: ALENDRONATE SODIUM
     Dosage: 1 DF 3/WEEK
  556. ALENDRONATE SODIUM [Suspect]
     Active Substance: ALENDRONATE SODIUM
     Dosage: 70 MG, 1X/DAY
  557. MORNIFLUMATE [Suspect]
     Active Substance: MORNIFLUMATE
     Dosage: 1 DOSAGE FORM, QD
     Route: 065
  558. MORNIFLUMATE [Suspect]
     Active Substance: MORNIFLUMATE
     Dosage: UNK UNK, QD
     Route: 065
  559. MORNIFLUMATE [Suspect]
     Active Substance: MORNIFLUMATE
     Dosage: 1 DOSAGE FORM, 1/WEEK
     Route: 065
  560. MORNIFLUMATE [Suspect]
     Active Substance: MORNIFLUMATE
     Dosage: UNK
     Route: 065
  561. MORNIFLUMATE [Suspect]
     Active Substance: MORNIFLUMATE
     Dosage: 100 MILLIGRAM, QD
     Route: 065
  562. MORNIFLUMATE [Suspect]
     Active Substance: MORNIFLUMATE
     Dosage: 1 DF
  563. MORNIFLUMATE [Suspect]
     Active Substance: MORNIFLUMATE
     Dosage: 1 DF, 1X/DAY
  564. MORNIFLUMATE [Suspect]
     Active Substance: MORNIFLUMATE
     Dosage: 1 DF
  565. MORNIFLUMATE [Suspect]
     Active Substance: MORNIFLUMATE
     Dosage: 1 DF, 1X/DAY
  566. MORNIFLUMATE [Suspect]
     Active Substance: MORNIFLUMATE
     Dosage: 1 DF, 1X/DAY
  567. SULFADIAZINE\TRIMETHOPRIM [Suspect]
     Active Substance: SULFADIAZINE\TRIMETHOPRIM
     Dosage: UNK, EVERY 3 WEEKS
     Route: 065
  568. SULFADIAZINE\TRIMETHOPRIM [Suspect]
     Active Substance: SULFADIAZINE\TRIMETHOPRIM
     Dosage: UNK
     Route: 065
  569. SULFADIAZINE\TRIMETHOPRIM [Suspect]
     Active Substance: SULFADIAZINE\TRIMETHOPRIM
     Dosage: UNK, CYCLIC (1 EVERY 33 WEEKS)
     Route: 065
  570. SULFADIAZINE\TRIMETHOPRIM [Suspect]
     Active Substance: SULFADIAZINE\TRIMETHOPRIM
     Dosage: 3 DF, WEEKLY
     Route: 065
  571. SULFADIAZINE\TRIMETHOPRIM [Suspect]
     Active Substance: SULFADIAZINE\TRIMETHOPRIM
     Dosage: UNK, WEEKLY
  572. SULFADIAZINE\TRIMETHOPRIM [Suspect]
     Active Substance: SULFADIAZINE\TRIMETHOPRIM
     Dosage: 3 DF, EVERY 3 WEEKS
  573. SULFADIAZINE\TRIMETHOPRIM [Suspect]
     Active Substance: SULFADIAZINE\TRIMETHOPRIM
     Dosage: 86 MG
     Route: 065
  574. SULFADIAZINE\TRIMETHOPRIM [Suspect]
     Active Substance: SULFADIAZINE\TRIMETHOPRIM
     Dosage: UNK, 1 EVERY .33 WEEKS
     Route: 065
  575. SULFADIAZINE\TRIMETHOPRIM [Suspect]
     Active Substance: SULFADIAZINE\TRIMETHOPRIM
     Dosage: UNK, WEEKLY
  576. SULFADIAZINE\TRIMETHOPRIM [Suspect]
     Active Substance: SULFADIAZINE\TRIMETHOPRIM
     Dosage: 3 DF, WEEKLY
  577. SULFADIAZINE\TRIMETHOPRIM [Suspect]
     Active Substance: SULFADIAZINE\TRIMETHOPRIM
     Dosage: UNK, EVERY 3 WEEKS
  578. SULFADIAZINE\TRIMETHOPRIM [Suspect]
     Active Substance: SULFADIAZINE\TRIMETHOPRIM
     Dosage: 86 MG
  579. SULFADIAZINE\TRIMETHOPRIM [Suspect]
     Active Substance: SULFADIAZINE\TRIMETHOPRIM
     Dosage: UNK, 33 WEEK
  580. SULFADIAZINE\TRIMETHOPRIM [Suspect]
     Active Substance: SULFADIAZINE\TRIMETHOPRIM
     Dosage: 3 DF, WEEKLY
  581. SULFADIAZINE\TRIMETHOPRIM [Suspect]
     Active Substance: SULFADIAZINE\TRIMETHOPRIM
     Dosage: UNK
  582. SULFADIAZINE\TRIMETHOPRIM [Suspect]
     Active Substance: SULFADIAZINE\TRIMETHOPRIM
     Dosage: UNK, CYCLIC
  583. SENNOSIDES [Suspect]
     Active Substance: SENNOSIDES
     Dosage: UNK
     Route: 065
  584. SENNOSIDES [Suspect]
     Active Substance: SENNOSIDES
     Dosage: 8.6 MILLIGRAM
     Route: 065
  585. SENNOSIDES [Suspect]
     Active Substance: SENNOSIDES
     Dosage: 9 MILLIGRAM
     Route: 065
  586. SENNOSIDES [Suspect]
     Active Substance: SENNOSIDES
     Dosage: UNK
     Route: 065
  587. SENNOSIDES [Suspect]
     Active Substance: SENNOSIDES
     Dosage: 8.6 MG
     Route: 048
  588. SULFATRIM [Suspect]
     Active Substance: SULFAMETHOXAZOLE\TRIMETHOPRIM
     Dosage: UNK
     Route: 065
  589. BETA GLUCAN [Suspect]
     Active Substance: BETA GLUCAN
     Dosage: UNK
     Route: 065
  590. BETA GLUCAN [Suspect]
     Active Substance: BETA GLUCAN
     Dosage: UNK
     Route: 065
  591. BETA GLUCAN [Suspect]
     Active Substance: BETA GLUCAN
     Dosage: UNK
  592. SENNA [Suspect]
     Active Substance: SENNOSIDES
     Dosage: UNK
     Route: 065
  593. SENNA [Suspect]
     Active Substance: SENNOSIDES
     Dosage: UNK
     Route: 048
  594. CEPHALEXIN [Suspect]
     Active Substance: CEPHALEXIN
     Dosage: UNK
     Route: 065
  595. CEPHALEXIN [Suspect]
     Active Substance: CEPHALEXIN
     Dosage: UNK
     Route: 065
  596. CEPHALEXIN [Suspect]
     Active Substance: CEPHALEXIN
     Dosage: 1 DF, 1X/DAY
     Route: 065
  597. CEPHALEXIN [Suspect]
     Active Substance: CEPHALEXIN
     Dosage: 1 DF
  598. CEFUROXIME AXETIL [Suspect]
     Active Substance: CEFUROXIME AXETIL
     Dosage: 1 DOSAGE FORM
     Route: 065
  599. CEFUROXIME AXETIL [Suspect]
     Active Substance: CEFUROXIME AXETIL
     Dosage: 4 DOSAGE FORM
     Route: 065
  600. CEFUROXIME AXETIL [Suspect]
     Active Substance: CEFUROXIME AXETIL
     Dosage: 500 MILLIGRAM, Q12H
     Route: 065
  601. CEFUROXIME AXETIL [Suspect]
     Active Substance: CEFUROXIME AXETIL
     Dosage: UNK UNK, QD
     Route: 065
  602. CEFUROXIME AXETIL [Suspect]
     Active Substance: CEFUROXIME AXETIL
     Dosage: 500 MILLIGRAM, QD
     Route: 065
  603. CEFUROXIME AXETIL [Suspect]
     Active Substance: CEFUROXIME AXETIL
     Dosage: 1 DOSAGE FORM, 2 IN 1 D
  604. CEFUROXIME AXETIL [Suspect]
     Active Substance: CEFUROXIME AXETIL
     Dosage: 4 DOSAGE FORM, 1 IN 1 D
     Route: 065
  605. CEFUROXIME AXETIL [Suspect]
     Active Substance: CEFUROXIME AXETIL
     Dosage: 2 DOSAGE FORM, 1 IN 1 D
     Route: 065
  606. CEFUROXIME AXETIL [Suspect]
     Active Substance: CEFUROXIME AXETIL
     Dosage: UNK, 2X/DAY
     Route: 065
  607. CEFUROXIME AXETIL [Suspect]
     Active Substance: CEFUROXIME AXETIL
     Dosage: 1 DF, 1X/DAY
     Route: 065
  608. CEFUROXIME AXETIL [Suspect]
     Active Substance: CEFUROXIME AXETIL
     Dosage: 500 MG, 2X/DAY
  609. CEFUROXIME AXETIL [Suspect]
     Active Substance: CEFUROXIME AXETIL
     Dosage: 500 MG, 2X/DAY
     Route: 065
  610. CEFUROXIME AXETIL [Suspect]
     Active Substance: CEFUROXIME AXETIL
     Dosage: 500 MG, 2X/DAY
  611. CEFUROXIME AXETIL [Suspect]
     Active Substance: CEFUROXIME AXETIL
     Dosage: 1 DF, 2X/DAY
  612. CEFUROXIME AXETIL [Suspect]
     Active Substance: CEFUROXIME AXETIL
     Dosage: 2 DF, 1X/DAY
  613. CEFUROXIME AXETIL [Suspect]
     Active Substance: CEFUROXIME AXETIL
     Dosage: 4 DF, 1X/DAY
     Route: 065
  614. CEFUROXIME AXETIL [Suspect]
     Active Substance: CEFUROXIME AXETIL
     Dosage: UNK, 2X/DAY
  615. CEFUROXIME AXETIL [Suspect]
     Active Substance: CEFUROXIME AXETIL
     Dosage: 2 DF, 2X/DAY
  616. CEFUROXIME AXETIL [Suspect]
     Active Substance: CEFUROXIME AXETIL
     Dosage: 1000 MG, 1X/DAY
  617. CEFUROXIME AXETIL [Suspect]
     Active Substance: CEFUROXIME AXETIL
     Dosage: 1 DF, 1X/DAY
     Route: 065
  618. CEFUROXIME AXETIL [Suspect]
     Active Substance: CEFUROXIME AXETIL
     Dosage: 500 MG, 1X/DAY
     Route: 065
  619. CEFUROXIME AXETIL [Suspect]
     Active Substance: CEFUROXIME AXETIL
     Dosage: UNK
     Route: 065
  620. CEFUROXIME AXETIL [Suspect]
     Active Substance: CEFUROXIME AXETIL
     Dosage: 2 DF
     Route: 065
  621. CEFUROXIME AXETIL [Suspect]
     Active Substance: CEFUROXIME AXETIL
     Dosage: 1000 MG, QD
     Route: 065
  622. CEFUROXIME AXETIL [Suspect]
     Active Substance: CEFUROXIME AXETIL
     Dosage: 500 UNK
  623. CEFUROXIME AXETIL [Suspect]
     Active Substance: CEFUROXIME AXETIL
     Dosage: 2 DF, 2X/DAY (Q12H)
  624. CEFUROXIME AXETIL [Suspect]
     Active Substance: CEFUROXIME AXETIL
     Dosage: UNK UNK, 1X/DAY
  625. BETAMETHASONE DIPROPIONATE [Suspect]
     Active Substance: BETAMETHASONE DIPROPIONATE
     Dosage: UNK
     Route: 065
  626. BETAMETHASONE DIPROPIONATE [Suspect]
     Active Substance: BETAMETHASONE DIPROPIONATE
     Dosage: UNK
     Route: 065
  627. BETAMETHASONE DIPROPIONATE [Suspect]
     Active Substance: BETAMETHASONE DIPROPIONATE
     Dosage: UNK
     Route: 065
  628. BETAMETHASONE DIPROPIONATE [Suspect]
     Active Substance: BETAMETHASONE DIPROPIONATE
     Dosage: UNK
     Route: 065
  629. BETAMETHASONE DIPROPIONATE [Suspect]
     Active Substance: BETAMETHASONE DIPROPIONATE
     Dosage: UNK
     Route: 065
  630. BETAMETHASONE DIPROPIONATE [Suspect]
     Active Substance: BETAMETHASONE DIPROPIONATE
     Dosage: UNK
     Route: 065
  631. BETAMETHASONE DIPROPIONATE [Suspect]
     Active Substance: BETAMETHASONE DIPROPIONATE
     Dosage: UNK
     Route: 065
  632. BETAMETHASONE DIPROPIONATE [Suspect]
     Active Substance: BETAMETHASONE DIPROPIONATE
     Dosage: UNK
     Route: 065
  633. AZITHROMYCIN DIHYDRATE [Suspect]
     Active Substance: AZITHROMYCIN DIHYDRATE
     Dosage: 2 DOSAGE FORM, QD
     Route: 065
  634. AZITHROMYCIN DIHYDRATE [Suspect]
     Active Substance: AZITHROMYCIN DIHYDRATE
     Dosage: 1 DOSAGE FORM, QD
     Route: 065
  635. AZITHROMYCIN DIHYDRATE [Suspect]
     Active Substance: AZITHROMYCIN DIHYDRATE
     Dosage: 2 DOSAGE FORM, QD
     Route: 065
  636. AZITHROMYCIN DIHYDRATE [Suspect]
     Active Substance: AZITHROMYCIN DIHYDRATE
     Dosage: UNK, 1X/DAY (QD)
     Route: 065
  637. AZITHROMYCIN DIHYDRATE [Suspect]
     Active Substance: AZITHROMYCIN DIHYDRATE
     Dosage: UNK UNK, QD
     Route: 065
  638. AZITHROMYCIN DIHYDRATE [Suspect]
     Active Substance: AZITHROMYCIN DIHYDRATE
     Dosage: UNK
     Route: 065
  639. AZITHROMYCIN DIHYDRATE [Suspect]
     Active Substance: AZITHROMYCIN DIHYDRATE
     Dosage: UNK
  640. AZITHROMYCIN DIHYDRATE [Suspect]
     Active Substance: AZITHROMYCIN DIHYDRATE
     Dosage: 2 DF, 1X/DAY
     Route: 065
  641. AZITHROMYCIN DIHYDRATE [Suspect]
     Active Substance: AZITHROMYCIN DIHYDRATE
     Dosage: UNK
  642. AZITHROMYCIN DIHYDRATE [Suspect]
     Active Substance: AZITHROMYCIN DIHYDRATE
     Dosage: 2 DF
  643. AZITHROMYCIN DIHYDRATE [Suspect]
     Active Substance: AZITHROMYCIN DIHYDRATE
     Dosage: 250 MG, 1X/DAY
  644. AZITHROMYCIN DIHYDRATE [Suspect]
     Active Substance: AZITHROMYCIN DIHYDRATE
     Dosage: 2 DF, 1X/DAY
  645. AZITHROMYCIN DIHYDRATE [Suspect]
     Active Substance: AZITHROMYCIN DIHYDRATE
     Dosage: 1 DF, 2X/DAY
  646. AZITHROMYCIN DIHYDRATE [Suspect]
     Active Substance: AZITHROMYCIN DIHYDRATE
     Dosage: UNK, 2X/DAY
  647. AZITHROMYCIN DIHYDRATE [Suspect]
     Active Substance: AZITHROMYCIN DIHYDRATE
     Dosage: UNK, 1X/DAY
  648. AZITHROMYCIN DIHYDRATE [Suspect]
     Active Substance: AZITHROMYCIN DIHYDRATE
     Dosage: UNK, 1X/DAY
  649. AZITHROMYCIN DIHYDRATE [Suspect]
     Active Substance: AZITHROMYCIN DIHYDRATE
     Dosage: 250 MG, 2X/DAY
  650. AZITHROMYCIN DIHYDRATE [Suspect]
     Active Substance: AZITHROMYCIN DIHYDRATE
     Dosage: 2 DF
  651. GLUCAGON HYDROCHLORIDE [Suspect]
     Active Substance: GLUCAGON HYDROCHLORIDE
     Dosage: UNK
     Route: 065
  652. GLUCAGON HYDROCHLORIDE [Suspect]
     Active Substance: GLUCAGON HYDROCHLORIDE
     Dosage: UNK
     Route: 065
  653. GLUCAGON HYDROCHLORIDE [Suspect]
     Active Substance: GLUCAGON HYDROCHLORIDE
     Dosage: 1 DF, 1X/DAY
  654. SULFADIAZINE [Suspect]
     Active Substance: SULFADIAZINE
     Dosage: 1 EVERY 33 WEEKS
     Route: 065
  655. SULFADIAZINE [Suspect]
     Active Substance: SULFADIAZINE
     Dosage: 1 EVERY 33 WEEKS
  656. BUDESONIDE [Suspect]
     Active Substance: BUDESONIDE
     Dosage: UNK
     Route: 065
  657. BUDESONIDE [Suspect]
     Active Substance: BUDESONIDE
     Dosage: UNK
     Route: 055
  658. BUDESONIDE [Suspect]
     Active Substance: BUDESONIDE
     Dosage: UNK
     Route: 048
  659. BUDESONIDE [Suspect]
     Active Substance: BUDESONIDE
     Dosage: 2 DF
     Route: 048
  660. UMECLIDINIUM BROMIDE [Suspect]
     Active Substance: UMECLIDINIUM BROMIDE
     Dosage: 1 DOSAGE FORM, QD
     Route: 065
  661. UMECLIDINIUM BROMIDE [Suspect]
     Active Substance: UMECLIDINIUM BROMIDE
     Dosage: 1 MG, 1X/DAY
     Route: 065
  662. UMECLIDINIUM BROMIDE [Suspect]
     Active Substance: UMECLIDINIUM BROMIDE
     Dosage: UNK, 1X/DAY
     Route: 065
  663. UMECLIDINIUM BROMIDE [Suspect]
     Active Substance: UMECLIDINIUM BROMIDE
     Dosage: 7 MG
     Route: 065
  664. UMECLIDINIUM BROMIDE [Suspect]
     Active Substance: UMECLIDINIUM BROMIDE
     Dosage: 1 DF
     Route: 065
  665. UMECLIDINIUM BROMIDE [Suspect]
     Active Substance: UMECLIDINIUM BROMIDE
     Dosage: 1 DF, 1X/DAY
     Route: 055
  666. UMECLIDINIUM BROMIDE [Suspect]
     Active Substance: UMECLIDINIUM BROMIDE
     Dosage: UNK
  667. BETAMETHASONE [Suspect]
     Active Substance: BETAMETHASONE
     Dosage: UNK
     Route: 065
  668. BETAMETHASONE [Suspect]
     Active Substance: BETAMETHASONE
     Dosage: UNK
  669. CHOLECALCIFEROL [Suspect]
     Active Substance: CHOLECALCIFEROL
     Dosage: UNK
     Route: 065
  670. CHOLECALCIFEROL [Suspect]
     Active Substance: CHOLECALCIFEROL
     Dosage: UNK
     Route: 065
  671. SERTRALINE HYDROCHLORIDE [Suspect]
     Active Substance: SERTRALINE HYDROCHLORIDE
     Dosage: UNK
     Route: 065
  672. SERTRALINE HYDROCHLORIDE [Suspect]
     Active Substance: SERTRALINE HYDROCHLORIDE
     Dosage: UNK, EVERY 5 DAYS
  673. SERTRALINE HYDROCHLORIDE [Suspect]
     Active Substance: SERTRALINE HYDROCHLORIDE
     Dosage: 2 DF, 1X/DAY
  674. SERTRALINE HYDROCHLORIDE [Suspect]
     Active Substance: SERTRALINE HYDROCHLORIDE
     Dosage: 1000 MG, 1X/DAY
  675. SERTRALINE HYDROCHLORIDE [Suspect]
     Active Substance: SERTRALINE HYDROCHLORIDE
     Dosage: 1 DF, 1X/DAY
  676. SERTRALINE HYDROCHLORIDE [Suspect]
     Active Substance: SERTRALINE HYDROCHLORIDE
     Dosage: 4 DF, EVERY 5 DAYS
  677. SERTRALINE HYDROCHLORIDE [Suspect]
     Active Substance: SERTRALINE HYDROCHLORIDE
     Dosage: 4 DF, 1X/DAY
  678. SERTRALINE HYDROCHLORIDE [Suspect]
     Active Substance: SERTRALINE HYDROCHLORIDE
     Dosage: 500 MG, EVERY 5 DAYS
  679. SERTRALINE HYDROCHLORIDE [Suspect]
     Active Substance: SERTRALINE HYDROCHLORIDE
     Dosage: 2 DF, EVERY 5 DAYS
  680. NUCALA [Suspect]
     Active Substance: MEPOLIZUMAB
     Dosage: UNK
     Route: 065
  681. NUCALA [Suspect]
     Active Substance: MEPOLIZUMAB
     Dosage: UNK
  682. LIRAGLUTIDE [Suspect]
     Active Substance: LIRAGLUTIDE
     Dosage: UNK
     Route: 065
  683. LEVOTHYROXINE SODIUM [Suspect]
     Active Substance: LEVOTHYROXINE SODIUM
     Dosage: UNK
     Route: 065
  684. MONTELUKAST SODIUM [Suspect]
     Active Substance: MONTELUKAST SODIUM
     Indication: Asthma
     Dosage: UNK
     Route: 065
  685. RUPATADINE [Suspect]
     Active Substance: RUPATADINE
     Dosage: UNK
     Route: 065
  686. SULFAMETHOXAZOLE\TRIMETHOPRIM [Suspect]
     Active Substance: SULFAMETHOXAZOLE\TRIMETHOPRIM
     Indication: Prophylaxis
     Dosage: UNK UNK, EVERY 3 WEEKS
     Route: 065
  687. SULFAMETHOXAZOLE\TRIMETHOPRIM [Suspect]
     Active Substance: SULFAMETHOXAZOLE\TRIMETHOPRIM
     Dosage: 3 DOSAGE FORM, 3/WEEK
     Route: 065
  688. SULFAMETHOXAZOLE\TRIMETHOPRIM [Suspect]
     Active Substance: SULFAMETHOXAZOLE\TRIMETHOPRIM
     Dosage: 3 DOSAGE FORM, 3/WEEK
     Route: 065
  689. SULFAMETHOXAZOLE\TRIMETHOPRIM [Suspect]
     Active Substance: SULFAMETHOXAZOLE\TRIMETHOPRIM
     Dosage: 3 DF, WEEKLY
  690. SULFAMETHOXAZOLE\TRIMETHOPRIM [Suspect]
     Active Substance: SULFAMETHOXAZOLE\TRIMETHOPRIM
     Dosage: 3 DF, WEEKLY
  691. SULFAMETHOXAZOLE\TRIMETHOPRIM [Suspect]
     Active Substance: SULFAMETHOXAZOLE\TRIMETHOPRIM
     Dosage: 3 DF, WEEKLY
     Route: 065
  692. SULFAMETHOXAZOLE\TRIMETHOPRIM [Suspect]
     Active Substance: SULFAMETHOXAZOLE\TRIMETHOPRIM
     Dosage: UNK
     Route: 065
  693. SULFAMETHOXAZOLE\TRIMETHOPRIM [Suspect]
     Active Substance: SULFAMETHOXAZOLE\TRIMETHOPRIM
     Dosage: UNK, CYCLIC (3 EVERY 1 WEEKS)
     Route: 065
  694. SULFAMETHOXAZOLE\TRIMETHOPRIM [Suspect]
     Active Substance: SULFAMETHOXAZOLE\TRIMETHOPRIM
     Dosage: UNK
     Route: 042
  695. SULFAMETHOXAZOLE\TRIMETHOPRIM [Suspect]
     Active Substance: SULFAMETHOXAZOLE\TRIMETHOPRIM
     Dosage: UNK, EVERY 3 WEEKS
     Route: 042
  696. SULFAMETHOXAZOLE\TRIMETHOPRIM [Suspect]
     Active Substance: SULFAMETHOXAZOLE\TRIMETHOPRIM
     Dosage: UNK, EVERY 3 WEEKS
  697. SULFAMETHOXAZOLE\TRIMETHOPRIM [Suspect]
     Active Substance: SULFAMETHOXAZOLE\TRIMETHOPRIM
     Dosage: 3 DF
  698. SULFAMETHOXAZOLE\TRIMETHOPRIM [Suspect]
     Active Substance: SULFAMETHOXAZOLE\TRIMETHOPRIM
     Dosage: 86 MG, EVERY 3 WEEKS
  699. DILTIAZEM HYDROCHLORIDE [Suspect]
     Active Substance: DILTIAZEM HYDROCHLORIDE
     Dosage: 120 MG, 1X/DAY
     Route: 065
  700. DILTIAZEM HYDROCHLORIDE [Suspect]
     Active Substance: DILTIAZEM HYDROCHLORIDE
     Dosage: UNK
     Route: 065
  701. DILTIAZEM HYDROCHLORIDE [Suspect]
     Active Substance: DILTIAZEM HYDROCHLORIDE
     Dosage: UNK
  702. DILTIAZEM HYDROCHLORIDE [Suspect]
     Active Substance: DILTIAZEM HYDROCHLORIDE
     Dosage: 120 MG
  703. DILTIAZEM HYDROCHLORIDE [Suspect]
     Active Substance: DILTIAZEM HYDROCHLORIDE
     Dosage: 1200 MG
  704. DILTIAZEM HYDROCHLORIDE [Suspect]
     Active Substance: DILTIAZEM HYDROCHLORIDE
     Dosage: 15 MG DAILY
  705. DOXAZOSIN [Suspect]
     Active Substance: DOXAZOSIN MESYLATE
     Dosage: 4.0 MILLIGRAM
     Route: 065
  706. DOXAZOSIN [Suspect]
     Active Substance: DOXAZOSIN MESYLATE
     Dosage: UNK
     Route: 065
  707. DOXAZOSIN [Suspect]
     Active Substance: DOXAZOSIN MESYLATE
     Dosage: 0.5 MG
     Route: 065
  708. DOXAZOSIN [Suspect]
     Active Substance: DOXAZOSIN MESYLATE
     Dosage: 4 MG
     Route: 065
  709. DOXAZOSIN [Suspect]
     Active Substance: DOXAZOSIN MESYLATE
     Dosage: 5 MG
     Route: 065
  710. DOXAZOSIN MESYLATE [Suspect]
     Active Substance: DOXAZOSIN MESYLATE
     Dosage: 750 MILLIGRAM, QD
     Route: 065
  711. DOXAZOSIN MESYLATE [Suspect]
     Active Substance: DOXAZOSIN MESYLATE
     Dosage: UNK
     Route: 065
  712. DOXAZOSIN MESYLATE [Suspect]
     Active Substance: DOXAZOSIN MESYLATE
     Dosage: 4 MG
     Route: 065
  713. DOXAZOSIN MESYLATE [Suspect]
     Active Substance: DOXAZOSIN MESYLATE
     Dosage: 40 MG
     Route: 065
  714. DOXAZOSIN MESYLATE [Suspect]
     Active Substance: DOXAZOSIN MESYLATE
     Dosage: 5 MG, 1X/DAY
  715. DOXAZOSIN MESYLATE [Suspect]
     Active Substance: DOXAZOSIN MESYLATE
     Dosage: 0.5 MG, 1X/DAY
  716. DOXAZOSIN MESYLATE [Suspect]
     Active Substance: DOXAZOSIN MESYLATE
     Dosage: 4 MG, 1X/DAY
  717. DUTASTERIDE [Suspect]
     Active Substance: DUTASTERIDE
     Dosage: 750 MILLIGRAM, QD
     Route: 065
  718. DUTASTERIDE [Suspect]
     Active Substance: DUTASTERIDE
     Dosage: UNK
     Route: 065
  719. DUTASTERIDE [Suspect]
     Active Substance: DUTASTERIDE
     Dosage: 10 MG
     Route: 065
  720. DUTASTERIDE [Suspect]
     Active Substance: DUTASTERIDE
     Dosage: 0.5 MG
     Route: 065
  721. DUTASTERIDE [Suspect]
     Active Substance: DUTASTERIDE
     Dosage: 10 MG, 1X/DAY
     Route: 065
  722. DUTASTERIDE [Suspect]
     Active Substance: DUTASTERIDE
     Dosage: 5 MG
     Route: 065
  723. ESCITALOPRAM [Suspect]
     Active Substance: ESCITALOPRAM OXALATE
     Dosage: 10 MG
     Route: 065
  724. ESCITALOPRAM [Suspect]
     Active Substance: ESCITALOPRAM OXALATE
     Dosage: UNK
     Route: 065
  725. ESCITALOPRAM [Suspect]
     Active Substance: ESCITALOPRAM OXALATE
     Dosage: 2 DOSAGE FORM
     Route: 065
  726. ESCITALOPRAM [Suspect]
     Active Substance: ESCITALOPRAM OXALATE
     Dosage: 10 MG
     Route: 065
  727. ESCITALOPRAM [Suspect]
     Active Substance: ESCITALOPRAM OXALATE
     Dosage: 10.0 MILLIGRAM
     Route: 065
  728. ESCITALOPRAM [Suspect]
     Active Substance: ESCITALOPRAM OXALATE
     Dosage: 750 MG, 1X/DAY
     Route: 065
  729. FORMOTEROL [Suspect]
     Active Substance: FORMOTEROL
     Dosage: 2.0 DOSAGE FORM
     Route: 065
  730. FORMOTEROL [Suspect]
     Active Substance: FORMOTEROL
     Dosage: UNK (FOR INHALATION)
     Route: 065
  731. FORMOTEROL [Suspect]
     Active Substance: FORMOTEROL
     Dosage: 2 DF, 1X/DAY
     Route: 065
  732. FORMOTEROL [Suspect]
     Active Substance: FORMOTEROL
     Dosage: 750 MG, 1X/DAY
     Route: 065
  733. FORMOTEROL [Suspect]
     Active Substance: FORMOTEROL
     Dosage: 2 DF
     Route: 055
  734. MOXIFLOXACIN [Suspect]
     Active Substance: MOXIFLOXACIN
     Dosage: 750 MILLIGRAM, QD
     Route: 065
  735. MOXIFLOXACIN [Suspect]
     Active Substance: MOXIFLOXACIN
     Dosage: UNK
     Route: 065
  736. ZENHALE [Suspect]
     Active Substance: FORMOTEROL FUMARATE\MOMETASONE FUROATE
     Dosage: 2 DOSAGE FORM
     Route: 065
  737. ZENHALE [Suspect]
     Active Substance: FORMOTEROL FUMARATE\MOMETASONE FUROATE
     Dosage: 2 DOSAGE FORM
     Route: 065
  738. ZENHALE [Suspect]
     Active Substance: FORMOTEROL FUMARATE\MOMETASONE FUROATE
     Dosage: UNK (AEROSOL, METERED DOSE)
     Route: 065
  739. ZENHALE [Suspect]
     Active Substance: FORMOTEROL FUMARATE\MOMETASONE FUROATE
     Dosage: 750 MG, 1X/DAY AEROSOL, METERED DOSE
     Route: 065
  740. ZENHALE [Suspect]
     Active Substance: FORMOTEROL FUMARATE\MOMETASONE FUROATE
     Dosage: 2 DF (METERED DOSE)
  741. ZENHALE [Suspect]
     Active Substance: FORMOTEROL FUMARATE\MOMETASONE FUROATE
     Dosage: UNK (METERED DOSE)
  742. ZENHALE [Suspect]
     Active Substance: FORMOTEROL FUMARATE\MOMETASONE FUROATE
     Dosage: UNK (METERED DOSE)
  743. ZENHALE [Suspect]
     Active Substance: FORMOTEROL FUMARATE\MOMETASONE FUROATE
     Dosage: UNK (AEROSOL, METERED DOSE)
  744. ADVAIR HFA [Suspect]
     Active Substance: FLUTICASONE PROPIONATE\SALMETEROL XINAFOATE
     Indication: Asthma
     Dosage: UNK
     Route: 065
  745. ADVAIR HFA [Suspect]
     Active Substance: FLUTICASONE PROPIONATE\SALMETEROL XINAFOATE
     Dosage: UNK
  746. ADVAIR HFA [Suspect]
     Active Substance: FLUTICASONE PROPIONATE\SALMETEROL XINAFOATE
     Dosage: 500 MG QD
     Route: 065
  747. AMOXICILLIN AND CLAVULANATE POTASSIUM [Suspect]
     Active Substance: AMOXICILLIN\CLAVULANATE POTASSIUM
     Dosage: UNK
     Route: 065
  748. AMOXICILLIN AND CLAVULANATE POTASSIUM [Suspect]
     Active Substance: AMOXICILLIN\CLAVULANATE POTASSIUM
     Dosage: UNK
  749. LEVOFLOXACIN HEMIHYDRATE [Suspect]
     Active Substance: LEVOFLOXACIN
     Dosage: UNK, 1X/DAY
     Route: 065
  750. LEVOFLOXACIN HEMIHYDRATE [Suspect]
     Active Substance: LEVOFLOXACIN
     Dosage: 750 MG
     Route: 065
  751. LEVOFLOXACIN HEMIHYDRATE [Suspect]
     Active Substance: LEVOFLOXACIN
     Dosage: 1 DF, 2X/DAY
  752. LEVOFLOXACIN HEMIHYDRATE [Suspect]
     Active Substance: LEVOFLOXACIN
     Dosage: 3 DF, 1X/DAY
     Route: 065
  753. LEVOFLOXACIN HEMIHYDRATE [Suspect]
     Active Substance: LEVOFLOXACIN
     Dosage: 500 MG, 1X/DAY
     Route: 065
  754. LEVOFLOXACIN HEMIHYDRATE [Suspect]
     Active Substance: LEVOFLOXACIN
     Dosage: 750 MG, 1X/DAY
     Route: 065
  755. LEVOFLOXACIN HEMIHYDRATE [Suspect]
     Active Substance: LEVOFLOXACIN
     Dosage: 3 DF, 1X/DAY
     Route: 055
  756. LEVOFLOXACIN HEMIHYDRATE [Suspect]
     Active Substance: LEVOFLOXACIN
     Dosage: NEBULISER SOLUTION
     Route: 065
  757. LEVOFLOXACIN HEMIHYDRATE [Suspect]
     Active Substance: LEVOFLOXACIN
     Dosage: 750 MG
     Route: 065
  758. LEVOFLOXACIN HEMIHYDRATE [Suspect]
     Active Substance: LEVOFLOXACIN
     Dosage: 1 DF, 1X/DAY
     Route: 065
  759. LEVOFLOXACIN HEMIHYDRATE [Suspect]
     Active Substance: LEVOFLOXACIN
     Dosage: UNK, EVERY 8 HOURS
     Route: 065
  760. LEVOFLOXACIN HEMIHYDRATE [Suspect]
     Active Substance: LEVOFLOXACIN
     Dosage: UNK
     Route: 065
  761. LEVOFLOXACIN HEMIHYDRATE [Suspect]
     Active Substance: LEVOFLOXACIN
     Dosage: 70 MG
     Route: 065
  762. LEVOFLOXACIN HEMIHYDRATE [Suspect]
     Active Substance: LEVOFLOXACIN
     Dosage: 500 MG, QD
     Route: 065
  763. LEVOFLOXACIN HEMIHYDRATE [Suspect]
     Active Substance: LEVOFLOXACIN
     Dosage: 500 MG
  764. BASAGLAR [Suspect]
     Active Substance: INSULIN GLARGINE
     Dosage: UNK, 1X/DAY
     Route: 058
  765. BASAGLAR [Suspect]
     Active Substance: INSULIN GLARGINE
     Dosage: 1 DF
     Route: 058
  766. BASAGLAR [Suspect]
     Active Substance: INSULIN GLARGINE
     Dosage: 1 DF
     Route: 058
  767. BASAGLAR [Suspect]
     Active Substance: INSULIN GLARGINE
     Dosage: 1 DF, 1X/DAY
     Route: 058
  768. BASAGLAR [Suspect]
     Active Substance: INSULIN GLARGINE
     Dosage: UNK
     Route: 058
  769. BASAGLAR [Suspect]
     Active Substance: INSULIN GLARGINE
     Dosage: UNK
     Route: 058
  770. BASAGLAR [Suspect]
     Active Substance: INSULIN GLARGINE
     Dosage: 1 DF
     Route: 058
  771. PENICILLIN V POTASSIUM [Suspect]
     Active Substance: PENICILLIN V POTASSIUM
     Dosage: UNK
     Route: 065
  772. BUDESONIDE\FORMOTEROL FUMARATE [Suspect]
     Active Substance: BUDESONIDE\FORMOTEROL FUMARATE
     Dosage: UNK
     Route: 055
  773. BUDESONIDE\FORMOTEROL FUMARATE [Suspect]
     Active Substance: BUDESONIDE\FORMOTEROL FUMARATE
     Dosage: UNK
     Route: 065
  774. HERBALS\SENNOSIDES [Suspect]
     Active Substance: HERBALS\SENNOSIDES
     Dosage: UNK
     Route: 065
  775. CICLESONIDE [Suspect]
     Active Substance: CICLESONIDE
     Indication: Asthma
     Dosage: 750 MILLIGRAM, QD
     Route: 065
  776. CICLESONIDE [Suspect]
     Active Substance: CICLESONIDE
     Dosage: UNK
     Route: 065
  777. CICLESONIDE [Suspect]
     Active Substance: CICLESONIDE
     Dosage: UNK
  778. CICLESONIDE [Suspect]
     Active Substance: CICLESONIDE
     Dosage: 15 MILLIGRAM, QD
     Route: 065
  779. CICLESONIDE [Suspect]
     Active Substance: CICLESONIDE
     Dosage: 15 MG
  780. HYDROCHLOROTHIAZIDE [Suspect]
     Active Substance: HYDROCHLOROTHIAZIDE
     Dosage: 750 MILLIGRAM, QD
     Route: 065
  781. HYDROCHLOROTHIAZIDE [Suspect]
     Active Substance: HYDROCHLOROTHIAZIDE
     Dosage: 1 DOSAGE FORM, QD
     Route: 048
  782. HYDROCHLOROTHIAZIDE [Suspect]
     Active Substance: HYDROCHLOROTHIAZIDE
     Dosage: 500 MG
     Route: 048
  783. HYDROCHLOROTHIAZIDE [Suspect]
     Active Substance: HYDROCHLOROTHIAZIDE
     Dosage: 100 MG
     Route: 065
  784. HYDROCHLOROTHIAZIDE [Suspect]
     Active Substance: HYDROCHLOROTHIAZIDE
     Dosage: 4 DOSAGE FORM, QD
     Route: 048
  785. HYDROCHLOROTHIAZIDE [Suspect]
     Active Substance: HYDROCHLOROTHIAZIDE
     Dosage: 2 DOSAGE FORM, QD
     Route: 048
  786. HYDROCHLOROTHIAZIDE [Suspect]
     Active Substance: HYDROCHLOROTHIAZIDE
     Dosage: 1 DF, 1X/DAY
  787. HYDROCHLOROTHIAZIDE [Suspect]
     Active Substance: HYDROCHLOROTHIAZIDE
     Dosage: UNK, 1X/DAY
  788. HYDROCHLOROTHIAZIDE [Suspect]
     Active Substance: HYDROCHLOROTHIAZIDE
     Dosage: UNK
  789. HYDROCHLOROTHIAZIDE [Suspect]
     Active Substance: HYDROCHLOROTHIAZIDE
     Dosage: UNK
  790. HYDROCHLOROTHIAZIDE [Suspect]
     Active Substance: HYDROCHLOROTHIAZIDE
     Dosage: UNK
  791. PENICILLIN V [Suspect]
     Active Substance: PENICILLIN V
     Dosage: UNK
     Route: 065
  792. FINASTERIDE [Suspect]
     Active Substance: FINASTERIDE
     Dosage: UNK
     Route: 065
     Dates: start: 20231123, end: 20231124
  793. BECLOMETHASONE DIPROPIONATE\CLOTRIMAZOLE [Suspect]
     Active Substance: BECLOMETHASONE DIPROPIONATE\CLOTRIMAZOLE
     Dosage: UNK
     Route: 065
  794. THIAMINE [Suspect]
     Active Substance: THIAMINE
     Dosage: UNK
     Route: 065
     Dates: start: 20231123, end: 20231124
  795. PENICILLIN G SODIUM [Suspect]
     Active Substance: PENICILLIN G SODIUM
     Dosage: UNK
     Route: 065
  796. BETAMETHASONE DIPROPIONATE\CLOTRIMAZOLE\GENTAMICIN SULFATE [Suspect]
     Active Substance: BETAMETHASONE DIPROPIONATE\CLOTRIMAZOLE\GENTAMICIN SULFATE
     Dosage: UNK
     Route: 065
  797. NOVORAPID [Suspect]
     Active Substance: INSULIN ASPART
     Dosage: 1 DF, 1X/DAY(SOLUTION)
     Route: 058
  798. NOVORAPID [Suspect]
     Active Substance: INSULIN ASPART
     Dosage: 1 DF, 1X/DAY
     Route: 058
  799. NOVORAPID [Suspect]
     Active Substance: INSULIN ASPART
     Dosage: 1 DF, 1X/DAY
     Route: 058
  800. NOVORAPID [Suspect]
     Active Substance: INSULIN ASPART
     Dosage: 1 DF, 1X/DAY
     Route: 058
  801. NOVORAPID [Suspect]
     Active Substance: INSULIN ASPART
     Dosage: 1 DF, 1X/DAY
     Route: 058
  802. BREO ELLIPTA [Suspect]
     Active Substance: FLUTICASONE FUROATE\VILANTEROL TRIFENATATE
     Dosage: UNK (DOSAGE FORM: INHALATION)
     Route: 055
  803. PANTOPRAZOLE SODIUM ANHYDROUS [Suspect]
     Active Substance: PANTOPRAZOLE SODIUM ANHYDROUS
     Indication: Vasculitis
     Dosage: 2 DF, 1X/DAY
     Route: 065
  804. PANTOPRAZOLE SODIUM ANHYDROUS [Suspect]
     Active Substance: PANTOPRAZOLE SODIUM ANHYDROUS
     Indication: Hypothyroidism
     Dosage: 1 DF, 2X/DAY
  805. PANTOPRAZOLE SODIUM ANHYDROUS [Suspect]
     Active Substance: PANTOPRAZOLE SODIUM ANHYDROUS
     Dosage: UNK, 1X/DAY
     Route: 065
  806. PANTOPRAZOLE SODIUM ANHYDROUS [Suspect]
     Active Substance: PANTOPRAZOLE SODIUM ANHYDROUS
     Dosage: UNK, 2X/DAY
  807. PANTOPRAZOLE SODIUM ANHYDROUS [Suspect]
     Active Substance: PANTOPRAZOLE SODIUM ANHYDROUS
     Dosage: 2 DF, 1X/DAY
  808. PANTOPRAZOLE SODIUM ANHYDROUS [Suspect]
     Active Substance: PANTOPRAZOLE SODIUM ANHYDROUS
     Dosage: 2 DF, 1X/DAY
  809. PANTOPRAZOLE SODIUM ANHYDROUS [Suspect]
     Active Substance: PANTOPRAZOLE SODIUM ANHYDROUS
     Dosage: 40 MG, 1X/DAY
     Route: 065
  810. PANTOPRAZOLE SODIUM ANHYDROUS [Suspect]
     Active Substance: PANTOPRAZOLE SODIUM ANHYDROUS
     Dosage: UNK
  811. PANTOPRAZOLE SODIUM ANHYDROUS [Suspect]
     Active Substance: PANTOPRAZOLE SODIUM ANHYDROUS
     Dosage: 40 MG, 2X/DAY
  812. PANTOPRAZOLE SODIUM ANHYDROUS [Suspect]
     Active Substance: PANTOPRAZOLE SODIUM ANHYDROUS
     Dosage: 2 DF, 2X/DAY
  813. PANTOPRAZOLE SODIUM ANHYDROUS [Suspect]
     Active Substance: PANTOPRAZOLE SODIUM ANHYDROUS
     Dosage: 1 DF
  814. ESCITALOPRAM OXALATE [Suspect]
     Active Substance: ESCITALOPRAM OXALATE
     Dosage: UNK
  815. ESCITALOPRAM OXALATE [Suspect]
     Active Substance: ESCITALOPRAM OXALATE
     Dosage: 2 DF, QD
     Route: 065
  816. ESCITALOPRAM OXALATE [Suspect]
     Active Substance: ESCITALOPRAM OXALATE
     Dosage: 10 MG
  817. ESCITALOPRAM OXALATE [Suspect]
     Active Substance: ESCITALOPRAM OXALATE
     Dosage: 750 MG, 1X/DAY
  818. SENNA LEAF [Suspect]
     Active Substance: SENNA LEAF
     Dosage: UNK
     Route: 048
  819. SENNA LEAF [Suspect]
     Active Substance: SENNA LEAF
     Dosage: UNK
     Route: 065
  820. VILANTEROL TRIFENATATE [Suspect]
     Active Substance: VILANTEROL TRIFENATATE
     Dosage: UNK
  821. CALCIUM [Suspect]
     Active Substance: CALCIUM
     Dosage: UNK
     Route: 065
  822. CHOLECALCIFEROL [Suspect]
     Active Substance: CHOLECALCIFEROL
     Dosage: UNK
     Route: 065
  823. .ALPHA.-TOCOPHEROL ACETATE, D- [Suspect]
     Active Substance: .ALPHA.-TOCOPHEROL ACETATE, D-
     Dosage: UNK
     Route: 065
  824. CUPRIC SULFATE ANHYDROUS [Suspect]
     Active Substance: CUPRIC SULFATE ANHYDROUS
     Dosage: UNK
     Route: 065
  825. NICOTINAMIDE [Suspect]
     Active Substance: NIACINAMIDE
     Dosage: UNK
     Route: 065
  826. FERROUS SULFATE [Suspect]
     Active Substance: FERROUS SULFATE
     Dosage: UNK
     Route: 065
  827. AMOXICILLIN\CLAVULANIC ACID [Suspect]
     Active Substance: AMOXICILLIN\CLAVULANIC ACID
     Dosage: UNK
     Route: 065
  828. AMOXICILLIN\CLAVULANIC ACID [Suspect]
     Active Substance: AMOXICILLIN\CLAVULANIC ACID
     Dosage: UNK, 1X/DAY
     Route: 048
  829. AMOXICILLIN\CLAVULANIC ACID [Suspect]
     Active Substance: AMOXICILLIN\CLAVULANIC ACID
     Dosage: 1 DF, 1X/DAY
     Route: 048
  830. AMOXICILLIN\CLAVULANIC ACID [Suspect]
     Active Substance: AMOXICILLIN\CLAVULANIC ACID
     Dosage: 1 DF
     Route: 048
  831. ACETAZOLAMIDE [Suspect]
     Active Substance: ACETAZOLAMIDE
     Dosage: UNK
     Route: 065
  832. BISACODYL [Suspect]
     Active Substance: BISACODYL
     Dosage: UNK
     Route: 065
  833. CROSCARMELLOSE SODIUM [Suspect]
     Active Substance: CROSCARMELLOSE SODIUM
     Dosage: UNK
     Route: 065
  834. GLYBURIDE [Suspect]
     Active Substance: GLYBURIDE
     Dosage: UNK
     Route: 065
  835. SALMETEROL XINAFOATE [Suspect]
     Active Substance: SALMETEROL XINAFOATE
     Dosage: UNK
     Route: 065
  836. ASCORBIC ACID [Suspect]
     Active Substance: ASCORBIC ACID
     Dosage: UNK
     Route: 065
  837. FLUTICASONE [Suspect]
     Active Substance: FLUTICASONE
     Dosage: UNK
     Route: 065
  838. TRIMETHOPRIM [Suspect]
     Active Substance: TRIMETHOPRIM
     Dosage: UNK
     Route: 065
  839. FINASTERIDE\TAMSULOSIN [Suspect]
     Active Substance: FINASTERIDE\TAMSULOSIN
     Dosage: UNK
     Route: 065
  840. PENICILLIN G SODIUM [Suspect]
     Active Substance: PENICILLIN G SODIUM
     Dosage: UNK
     Route: 065
  841. SINGULAIR [Suspect]
     Active Substance: MONTELUKAST SODIUM
     Indication: Asthma
     Dosage: UNK
     Route: 065
  842. VITAMIN B1 [Suspect]
     Active Substance: THIAMINE HYDROCHLORIDE
     Dosage: UNK
     Route: 065
  843. SENNA ALATA WHOLE [Suspect]
     Active Substance: SENNA ALATA WHOLE
     Dosage: UNK
     Route: 065
  844. FORMOTEROL FUMARATE [Suspect]
     Active Substance: FORMOTEROL FUMARATE
     Dosage: 750 MG, 1X/DAY
     Route: 065
  845. FORMOTEROL FUMARATE [Suspect]
     Active Substance: FORMOTEROL FUMARATE
     Dosage: UNK
     Route: 065
  846. FORMOTEROL FUMARATE [Suspect]
     Active Substance: FORMOTEROL FUMARATE
     Dosage: 2 DF, 1X/DAY
     Route: 065
  847. FORMOTEROL FUMARATE [Suspect]
     Active Substance: FORMOTEROL FUMARATE
     Dosage: UNK
  848. FORMOTEROL FUMARATE [Suspect]
     Active Substance: FORMOTEROL FUMARATE
     Dosage: 2 DF
     Route: 055
  849. CARBAMAZEPINE [Suspect]
     Active Substance: CARBAMAZEPINE
     Dosage: UNK
     Route: 065
  850. GLICLAZIDE [Suspect]
     Active Substance: GLICLAZIDE
     Dosage: UNK
     Route: 065
  851. SYMBICORT [Suspect]
     Active Substance: BUDESONIDE\FORMOTEROL FUMARATE DIHYDRATE
     Dosage: UNK
  852. PULMICORT TURBUHALER [Suspect]
     Active Substance: BUDESONIDE
     Dosage: UNK (NEBUAMP)
  853. PULMICORT TURBUHALER [Suspect]
     Active Substance: BUDESONIDE
     Dosage: UNK (TURBUHALER)
  854. PULMICORT TURBUHALER [Suspect]
     Active Substance: BUDESONIDE
     Dosage: TABLET (DELAYEDAND EXTENDED RELEASE)
  855. BENFOTIAMINE [Suspect]
     Active Substance: BENFOTIAMINE
     Dosage: UNK
  856. CALCIUM SENNOSIDES [Suspect]
     Active Substance: SENNOSIDES
     Dosage: UNK
  857. ASCORBIC ACID\SODIUM ASCORBATE [Suspect]
     Active Substance: ASCORBIC ACID\SODIUM ASCORBATE
     Dosage: UNK
     Route: 065
  858. FINASTERIDE\TAMSULOSIN [Suspect]
     Active Substance: FINASTERIDE\TAMSULOSIN
     Dosage: UNK
  859. AMOXICILLIN\CLARITHROMYCIN\ESOMEPRAZOLE [Suspect]
     Active Substance: AMOXICILLIN\CLARITHROMYCIN\ESOMEPRAZOLE
     Dosage: UNK
  860. CALCIUM CARBONATE\CHOLECALCIFEROL [Suspect]
     Active Substance: CALCIUM CARBONATE\CHOLECALCIFEROL
     Indication: Asthma
     Dosage: 120 MG, 1X/DAY
  861. CEFUROXIME SODIUM [Suspect]
     Active Substance: CEFUROXIME SODIUM
     Dosage: 2 DF, DAILY
  862. CEFUROXIME SODIUM [Suspect]
     Active Substance: CEFUROXIME SODIUM
     Dosage: 2 DF
  863. CEFUROXIME SODIUM [Suspect]
     Active Substance: CEFUROXIME SODIUM
     Dosage: 1000 MG, DAILY
  864. CEFUROXIME SODIUM [Suspect]
     Active Substance: CEFUROXIME SODIUM
     Dosage: UNK
  865. CEFUROXIME SODIUM [Suspect]
     Active Substance: CEFUROXIME SODIUM
     Dosage: 2 DF, 2X/DAY (7 DAYS)
  866. CEFUROXIME SODIUM [Suspect]
     Active Substance: CEFUROXIME SODIUM
     Dosage: 1 DF, DAILY
  867. CEFUROXIME SODIUM [Suspect]
     Active Substance: CEFUROXIME SODIUM
     Dosage: 4 DF
  868. CEFUROXIME SODIUM [Suspect]
     Active Substance: CEFUROXIME SODIUM
     Dosage: 500 MG
  869. CEFUROXIME SODIUM [Suspect]
     Active Substance: CEFUROXIME SODIUM
     Dosage: 4 DF, DAILY
  870. CEFUROXIME SODIUM [Suspect]
     Active Substance: CEFUROXIME SODIUM
     Dosage: 500 MG, 2X/DAY
  871. CEFUROXIME SODIUM [Suspect]
     Active Substance: CEFUROXIME SODIUM
     Dosage: 2 DF, 1X/DAY
  872. CEFUROXIME SODIUM [Suspect]
     Active Substance: CEFUROXIME SODIUM
     Dosage: 2 DF
  873. CEFUROXIME SODIUM [Suspect]
     Active Substance: CEFUROXIME SODIUM
     Dosage: 1000 MG, 1X/DAY
  874. CEFUROXIME SODIUM [Suspect]
     Active Substance: CEFUROXIME SODIUM
     Dosage: UNK
  875. CEFUROXIME SODIUM [Suspect]
     Active Substance: CEFUROXIME SODIUM
     Dosage: 2 DF, 2X/DAY
  876. CEFUROXIME SODIUM [Suspect]
     Active Substance: CEFUROXIME SODIUM
     Dosage: 1 DF, 1X/DAY
  877. CEFUROXIME SODIUM [Suspect]
     Active Substance: CEFUROXIME SODIUM
     Dosage: 4 DF
  878. CEFUROXIME SODIUM [Suspect]
     Active Substance: CEFUROXIME SODIUM
     Dosage: 500 MG
  879. CEFUROXIME SODIUM [Suspect]
     Active Substance: CEFUROXIME SODIUM
     Dosage: 4 DF, 1X/DAY
  880. CEFUROXIME SODIUM [Suspect]
     Active Substance: CEFUROXIME SODIUM
     Dosage: 500 MG, 2X/DAY
  881. CEFUROXIME SODIUM [Suspect]
     Active Substance: CEFUROXIME SODIUM
     Dosage: 1 DF
  882. FLUTICASONE PROPIONATE\SALMETEROL XINAFOATE [Suspect]
     Active Substance: FLUTICASONE PROPIONATE\SALMETEROL XINAFOATE
     Indication: Asthma
     Dosage: 120 MG, 1X/DAY
  883. BECLOMETHASONE [Suspect]
     Active Substance: BECLOMETHASONE
     Dosage: UNK
  884. CEPHALEXIN MONOHYDRATE [Suspect]
     Active Substance: CEPHALEXIN MONOHYDRATE
     Dosage: 1 DF
  885. FERROUS SULFATE ANHYDROUS [Suspect]
     Active Substance: FERROUS SULFATE ANHYDROUS
     Dosage: UNK
  886. VITAMIN B COMPLEX [Suspect]
     Active Substance: CYANOCOBALAMIN\DEXPANTHENOL\NIACINAMIDE\PYRIDOXINE HYDROCHLORIDE\RIBOFLAVIN 5^-PHOSPHATE SODIUM\THIA
     Dosage: UNK
  887. CLAVULANATE POTASSIUM [Suspect]
     Active Substance: CLAVULANATE POTASSIUM
     Dosage: UNK
  888. CALCIUM LACTATE [Suspect]
     Active Substance: CALCIUM LACTATE
     Dosage: UNK
  889. PANTOTHENIC ACID [Suspect]
     Active Substance: PANTOTHENIC ACID
     Dosage: 1 DF, 1X/DAY
  890. AZATHIOPRINE SODIUM [Suspect]
     Active Substance: AZATHIOPRINE SODIUM
     Dosage: 1 DF, 1X/DAY
     Route: 042
  891. AZATHIOPRINE SODIUM [Suspect]
     Active Substance: AZATHIOPRINE SODIUM
     Dosage: POWDER FOR SOLUTION FOR INFUSION
     Route: 048
  892. AZATHIOPRINE SODIUM [Suspect]
     Active Substance: AZATHIOPRINE SODIUM
     Dosage: 250 MG, 1X/DAY
  893. AZATHIOPRINE SODIUM [Suspect]
     Active Substance: AZATHIOPRINE SODIUM
     Dosage: 100 MG, 1X/DAY, DF: POWDER FOR SOLUTION FOR INFUSION
     Route: 042
  894. AZATHIOPRINE SODIUM [Suspect]
     Active Substance: AZATHIOPRINE SODIUM
     Dosage: 100 MG, 1X/DAY
  895. AZATHIOPRINE SODIUM [Suspect]
     Active Substance: AZATHIOPRINE SODIUM
     Dosage: 50 MG, 1X/DAY
     Route: 048
  896. AZATHIOPRINE SODIUM [Suspect]
     Active Substance: AZATHIOPRINE SODIUM
     Dosage: 100 MG, 1X/DAY
     Route: 042
  897. AZATHIOPRINE SODIUM [Suspect]
     Active Substance: AZATHIOPRINE SODIUM
     Dosage: 100 MG, 1X/DAY
     Route: 048
  898. AZATHIOPRINE SODIUM [Suspect]
     Active Substance: AZATHIOPRINE SODIUM
     Dosage: 100 MG
  899. AZATHIOPRINE SODIUM [Suspect]
     Active Substance: AZATHIOPRINE SODIUM
     Dosage: UNK, 1X/DAY
  900. AZATHIOPRINE SODIUM [Suspect]
     Active Substance: AZATHIOPRINE SODIUM
     Dosage: 100 MG
  901. AZATHIOPRINE SODIUM [Suspect]
     Active Substance: AZATHIOPRINE SODIUM
     Dosage: 100 MG, 1X/DAY
     Route: 048
  902. AZATHIOPRINE SODIUM [Suspect]
     Active Substance: AZATHIOPRINE SODIUM
     Dosage: 50 MG
  903. AZATHIOPRINE SODIUM [Suspect]
     Active Substance: AZATHIOPRINE SODIUM
     Dosage: 2 DF, 1X/DAY
  904. AZATHIOPRINE SODIUM [Suspect]
     Active Substance: AZATHIOPRINE SODIUM
     Dosage: 1 DF, 2X/DAY (Q12H)
  905. AZATHIOPRINE SODIUM [Suspect]
     Active Substance: AZATHIOPRINE SODIUM
     Dosage: UNK, 2X/DAY(Q12H)
  906. AZATHIOPRINE SODIUM [Suspect]
     Active Substance: AZATHIOPRINE SODIUM
     Dosage: 100 MG
     Route: 042
  907. AZATHIOPRINE SODIUM [Suspect]
     Active Substance: AZATHIOPRINE SODIUM
     Dosage: 50 MG
     Route: 048
  908. AZATHIOPRINE SODIUM [Suspect]
     Active Substance: AZATHIOPRINE SODIUM
     Dosage: 100 MG
  909. AZATHIOPRINE SODIUM [Suspect]
     Active Substance: AZATHIOPRINE SODIUM
     Dosage: 1 DF, 1X/DAY
     Route: 042
  910. AZATHIOPRINE SODIUM [Suspect]
     Active Substance: AZATHIOPRINE SODIUM
     Dosage: 250 MG, 1X/DAY (ALSO REPORTED AS CYCLIC)
  911. AZATHIOPRINE SODIUM [Suspect]
     Active Substance: AZATHIOPRINE SODIUM
     Dosage: 100 MG, 1X/DAY
  912. AZATHIOPRINE SODIUM [Suspect]
     Active Substance: AZATHIOPRINE SODIUM
     Dosage: 50 MG, 1X/DAY
     Route: 048
  913. AZATHIOPRINE SODIUM [Suspect]
     Active Substance: AZATHIOPRINE SODIUM
     Dosage: 1 DF, 1X/DAY
     Route: 042
  914. AZATHIOPRINE SODIUM [Suspect]
     Active Substance: AZATHIOPRINE SODIUM
     Dosage: 50 MG, 1X/DAY
     Route: 048
  915. AZATHIOPRINE SODIUM [Suspect]
     Active Substance: AZATHIOPRINE SODIUM
     Dosage: 100 MG, 1X/DAY
  916. AZATHIOPRINE SODIUM [Suspect]
     Active Substance: AZATHIOPRINE SODIUM
     Dosage: 1 DF, 1X/DAY
     Route: 042
  917. AZATHIOPRINE SODIUM [Suspect]
     Active Substance: AZATHIOPRINE SODIUM
     Dosage: 50 MG, 1X/DAY
     Route: 048
  918. AZATHIOPRINE SODIUM [Suspect]
     Active Substance: AZATHIOPRINE SODIUM
     Dosage: 100 MG, 1X/DAY
  919. AZATHIOPRINE SODIUM [Suspect]
     Active Substance: AZATHIOPRINE SODIUM
     Dosage: 1 DF, 1X/DAY
  920. AZATHIOPRINE SODIUM [Suspect]
     Active Substance: AZATHIOPRINE SODIUM
     Dosage: 100 MG, 1X/DAY
  921. AZATHIOPRINE SODIUM [Suspect]
     Active Substance: AZATHIOPRINE SODIUM
     Dosage: 50 MG, 1X/DAY
  922. PENICILLIN G POTASSIUM [Suspect]
     Active Substance: PENICILLIN G POTASSIUM
     Dosage: UNK
  923. CANDESARTAN CILEXETIL\HYDROCHLOROTHIAZIDE [Suspect]
     Active Substance: CANDESARTAN CILEXETIL\HYDROCHLOROTHIAZIDE
  924. PANTOPRAZOLE MAGNESIUM [Suspect]
     Active Substance: PANTOPRAZOLE MAGNESIUM
  925. SENNOSIDES A AND B [Suspect]
     Active Substance: SENNOSIDES A AND B
  926. ROSUVASTATIN [Concomitant]
     Active Substance: ROSUVASTATIN
     Dosage: UNK
     Route: 058
  927. ROSUVASTATIN [Concomitant]
     Active Substance: ROSUVASTATIN
     Dosage: UNK
     Route: 065
  928. ROSUVASTATIN [Concomitant]
     Active Substance: ROSUVASTATIN
     Dosage: 20 MG
     Route: 058
  929. ROSUVASTATIN [Concomitant]
     Active Substance: ROSUVASTATIN
     Dosage: UNK
  930. ROSUVASTATIN CALCIUM [Concomitant]
     Active Substance: ROSUVASTATIN CALCIUM
     Dosage: UNK
  931. SULFAMETHOXAZOLE\TRIMETHOPRIM [Concomitant]
     Active Substance: SULFAMETHOXAZOLE\TRIMETHOPRIM
     Dosage: UNK
     Route: 065
  932. SULFAMETHOXAZOLE\TRIMETHOPRIM [Concomitant]
     Active Substance: SULFAMETHOXAZOLE\TRIMETHOPRIM
     Dosage: 3 DOSAGE FORM, 3/WEEK
     Route: 065
  933. SULFAMETHOXAZOLE\TRIMETHOPRIM [Concomitant]
     Active Substance: SULFAMETHOXAZOLE\TRIMETHOPRIM
     Dosage: UNK
     Route: 065
  934. LEVOFLOXACIN [Concomitant]
     Active Substance: LEVOFLOXACIN
     Dosage: 750 MG, 1X/DAY
  935. SULFAMETHOXAZOLE [Concomitant]
     Active Substance: SULFAMETHOXAZOLE
     Dosage: UNK
     Route: 065
  936. HUMALOG [Concomitant]
     Active Substance: INSULIN LISPRO
     Dosage: UNK
     Route: 065
  937. PIOGLITAZONE HYDROCHLORIDE [Concomitant]
     Active Substance: PIOGLITAZONE HYDROCHLORIDE
     Dosage: 12 MG
  938. PENICILLIN V [Concomitant]
     Active Substance: PENICILLIN V
     Dosage: UNK
     Route: 065
  939. FLOMAX [Concomitant]
     Active Substance: TAMSULOSIN HYDROCHLORIDE
     Dosage: 1 DF, 1X/DAY
     Route: 065
  940. FLOMAX [Concomitant]
     Active Substance: TAMSULOSIN HYDROCHLORIDE
     Dosage: 1 DF
     Route: 065
  941. FLOMAX [Concomitant]
     Active Substance: TAMSULOSIN HYDROCHLORIDE
     Dosage: 100 MG, 1X/DAY (CAPSULE,SUSTAINED RELEASE)
  942. FLOMAX [Concomitant]
     Active Substance: TAMSULOSIN HYDROCHLORIDE
     Dosage: 100 MG, 1X/DAY (MODIFIED-RELEASE CAPSULE, HARD)
  943. FLOMAX [Concomitant]
     Active Substance: TAMSULOSIN HYDROCHLORIDE
     Dosage: UNK, 1X/DAY
  944. FLOMAX [Concomitant]
     Active Substance: TAMSULOSIN HYDROCHLORIDE
     Dosage: UNK, WEEKLY
  945. FLOMAX [Concomitant]
     Active Substance: TAMSULOSIN HYDROCHLORIDE
     Dosage: 100 MG, WEEKLY
  946. FLOMAX [Concomitant]
     Active Substance: TAMSULOSIN HYDROCHLORIDE
     Dosage: 1 DF, WEEKLY
  947. FLOMAX [Concomitant]
     Active Substance: TAMSULOSIN HYDROCHLORIDE
     Dosage: 1 DF, 1X/DAY
     Route: 055
  948. FLOMAX [Concomitant]
     Active Substance: TAMSULOSIN HYDROCHLORIDE
     Dosage: UNK, 1X/DAY (MODIFIED-RELEASE CAPSULE, HARD)
  949. FLOMAX [Concomitant]
     Active Substance: TAMSULOSIN HYDROCHLORIDE
     Dosage: UNK, WEEKLY  (MODIFIED-RELEASE CAPSULE, HARD)
  950. FLOMAX [Concomitant]
     Active Substance: TAMSULOSIN HYDROCHLORIDE
     Dosage: 100 MG, WEEKLY (MODIFIED-RELEASE CAPSULE, HARD)
  951. PENICILLIN V POTASSIUM [Concomitant]
     Active Substance: PENICILLIN V POTASSIUM
     Dosage: UNK
     Route: 065
  952. MOMETASONE FUROATE [Concomitant]
     Active Substance: MOMETASONE FUROATE
     Dosage: UNK
  953. SERTRALINE HYDROCHLORIDE [Concomitant]
     Active Substance: SERTRALINE HYDROCHLORIDE
     Dosage: 5X/DAY
  954. SERTRALINE HYDROCHLORIDE [Concomitant]
     Active Substance: SERTRALINE HYDROCHLORIDE
     Dosage: 2 DF, 1X/DAY
  955. SERTRALINE HYDROCHLORIDE [Concomitant]
     Active Substance: SERTRALINE HYDROCHLORIDE
     Dosage: 1000 MG, 1X/DAY
  956. SERTRALINE HYDROCHLORIDE [Concomitant]
     Active Substance: SERTRALINE HYDROCHLORIDE
     Dosage: 1 DF, 1X/DAY
  957. SERTRALINE HYDROCHLORIDE [Concomitant]
     Active Substance: SERTRALINE HYDROCHLORIDE
     Dosage: 4 DF, 1X/DAY
  958. SERTRALINE HYDROCHLORIDE [Concomitant]
     Active Substance: SERTRALINE HYDROCHLORIDE
     Dosage: 4 DF, 1X/DAY
  959. SERTRALINE HYDROCHLORIDE [Concomitant]
     Active Substance: SERTRALINE HYDROCHLORIDE
     Dosage: 500 MG, 5X/DAY
  960. SERTRALINE HYDROCHLORIDE [Concomitant]
     Active Substance: SERTRALINE HYDROCHLORIDE
     Dosage: 2 DF, 5X/DAY
  961. CASSIA FISTULA [Concomitant]
     Dosage: UNK
  962. DIETARY SUPPLEMENT\MINERALS\VITAMINS [Concomitant]
     Active Substance: DIETARY SUPPLEMENT\MINERALS\VITAMINS
     Dosage: 400UNIT
  963. UMECLIDINIUM BROMIDE\VILANTEROL TRIFENATATE [Concomitant]
     Active Substance: UMECLIDINIUM BROMIDE\VILANTEROL TRIFENATATE
     Dosage: 1 DF, 1X/DAY
  964. PANTOPRAZOLE MAGNESIUM [Concomitant]
     Active Substance: PANTOPRAZOLE MAGNESIUM
     Dosage: 1 DF, 2X/DAY
  965. PANTOPRAZOLE MAGNESIUM [Concomitant]
     Active Substance: PANTOPRAZOLE MAGNESIUM
     Dosage: 2 DF, 1X/DAY
  966. PANTOPRAZOLE MAGNESIUM [Concomitant]
     Active Substance: PANTOPRAZOLE MAGNESIUM
     Dosage: UNK, 2X/DAY
  967. PANTOPRAZOLE MAGNESIUM [Concomitant]
     Active Substance: PANTOPRAZOLE MAGNESIUM
     Dosage: 40 MG, 2X/DAY
  968. PANTOPRAZOLE MAGNESIUM [Concomitant]
     Active Substance: PANTOPRAZOLE MAGNESIUM
     Dosage: 2 DF, 1X/DAY
  969. PANTOPRAZOLE SODIUM [Concomitant]
     Active Substance: PANTOPRAZOLE SODIUM
     Dosage: 1 DF, 2X/DAY
  970. PANTOPRAZOLE SODIUM [Concomitant]
     Active Substance: PANTOPRAZOLE SODIUM
     Dosage: 2 DF, 1X/DAY
  971. PANTOPRAZOLE SODIUM [Concomitant]
     Active Substance: PANTOPRAZOLE SODIUM
     Dosage: 80 UG, 1X/DAY
  972. PANTOPRAZOLE SODIUM [Concomitant]
     Active Substance: PANTOPRAZOLE SODIUM
     Dosage: 40 MG, 1X/DAY
  973. PANTOPRAZOLE SODIUM [Concomitant]
     Active Substance: PANTOPRAZOLE SODIUM
     Dosage: UNK, 1X/DAY
  974. PANTOPRAZOLE SODIUM [Concomitant]
     Active Substance: PANTOPRAZOLE SODIUM
     Dosage: 40 UG, 1X/DAY
  975. PANTOPRAZOLE SODIUM [Concomitant]
     Active Substance: PANTOPRAZOLE SODIUM
     Dosage: 2 DF, 2X/DAY
  976. PANTOPRAZOLE SODIUM [Concomitant]
     Active Substance: PANTOPRAZOLE SODIUM
     Dosage: UNK, 2X/DAY
  977. TAMSULOSIN HYDROCHLORIDE [Concomitant]
     Active Substance: TAMSULOSIN HYDROCHLORIDE
     Dosage: 1 DF, 1X/DAY
  978. TAMSULOSIN HYDROCHLORIDE [Concomitant]
     Active Substance: TAMSULOSIN HYDROCHLORIDE
     Dosage: 100 MG, WEEKLY
  979. TAMSULOSIN HYDROCHLORIDE [Concomitant]
     Active Substance: TAMSULOSIN HYDROCHLORIDE
     Dosage: 100 MG, 1X/DAY
  980. DOMPERIDONE [Concomitant]
     Active Substance: DOMPERIDONE
     Dosage: 2 DF, 1X/DAY
  981. DOMPERIDONE [Concomitant]
     Active Substance: DOMPERIDONE
     Dosage: 1 DF, 1X/DAY
  982. DOMPERIDONE [Concomitant]
     Active Substance: DOMPERIDONE
     Dosage: 20 MG, 1X/DAY
  983. DOMPERIDONE [Concomitant]
     Active Substance: DOMPERIDONE
     Dosage: 10 MG, 1X/DAY
  984. PANTOPRAZOLE SODIUM [Concomitant]
     Active Substance: PANTOPRAZOLE SODIUM
     Dosage: UNK, 1X/DAY
  985. PANTOPRAZOLE SODIUM [Concomitant]
     Active Substance: PANTOPRAZOLE SODIUM
     Dosage: 1 DF
  986. PANTOPRAZOLE SODIUM [Concomitant]
     Active Substance: PANTOPRAZOLE SODIUM
     Dosage: 2 DF, 1X/DAY
  987. PANTOPRAZOLE SODIUM [Concomitant]
     Active Substance: PANTOPRAZOLE SODIUM
     Dosage: UNK, 2X/DAY
  988. PANTOPRAZOLE SODIUM [Concomitant]
     Active Substance: PANTOPRAZOLE SODIUM
     Dosage: 4 DF, 1X/DAY
  989. PANTOPRAZOLE SODIUM [Concomitant]
     Active Substance: PANTOPRAZOLE SODIUM
     Dosage: 8 DF, 1X/DAY
  990. PANTOPRAZOLE SODIUM [Concomitant]
     Active Substance: PANTOPRAZOLE SODIUM
     Dosage: 2 DF, 1X/DAY
  991. PANTOPRAZOLE SODIUM [Concomitant]
     Active Substance: PANTOPRAZOLE SODIUM
     Dosage: 1 DF, 2X/DAY
  992. PANTOPRAZOLE SODIUM [Concomitant]
     Active Substance: PANTOPRAZOLE SODIUM
     Dosage: 2 DF, 2X/DAY
  993. PANTOPRAZOLE SODIUM [Concomitant]
     Active Substance: PANTOPRAZOLE SODIUM
     Dosage: 40 MG, 2X/DAY
  994. ACTOS [Concomitant]
     Active Substance: PIOGLITAZONE HYDROCHLORIDE
     Dosage: UNK
  995. AMOXICILLIN [Concomitant]
     Active Substance: AMOXICILLIN
     Dosage: UNK
  996. CANDESARTAN [Concomitant]
     Active Substance: CANDESARTAN
     Dosage: UNK UNK, 1X/DAY
     Route: 048
  997. CANDESARTAN [Concomitant]
     Active Substance: CANDESARTAN
     Dosage: 1 DF, 1X/DAY
     Route: 048
  998. CANDESARTAN [Concomitant]
     Active Substance: CANDESARTAN
     Dosage: 32 MG, 1X/DAY
     Route: 048
  999. CANDESARTAN [Concomitant]
     Active Substance: CANDESARTAN
     Dosage: 500 MG
     Route: 048
  1000. CANDESARTAN [Concomitant]
     Active Substance: CANDESARTAN
     Dosage: 500 MG
  1001. CANDESARTAN [Concomitant]
     Active Substance: CANDESARTAN
     Dosage: 32 MG, 1X/DAY
  1002. CANDESARTAN [Concomitant]
     Active Substance: CANDESARTAN
     Dosage: UNK, CYCLIC
  1003. CANDESARTAN [Concomitant]
     Active Substance: CANDESARTAN
     Dosage: 500 MG, 1X/DAY
  1004. CANDESARTAN [Concomitant]
     Active Substance: CANDESARTAN
     Dosage: UNK, 1X/DAY
  1005. CANDESARTAN [Concomitant]
     Active Substance: CANDESARTAN
     Dosage: 52 MG, 1X/DAY
     Route: 048
  1006. CANDESARTAN [Concomitant]
     Active Substance: CANDESARTAN
     Dosage: 30 MG, 1X/DAY
  1007. CANDESARTAN [Concomitant]
     Active Substance: CANDESARTAN
     Dosage: UNK, 1X/DAY
  1008. CANDESARTAN [Concomitant]
     Active Substance: CANDESARTAN
     Dosage: 100 MG
  1009. CANDESARTAN [Concomitant]
     Active Substance: CANDESARTAN
     Dosage: 500 MG, 2X/DAY
  1010. CANDESARTAN [Concomitant]
     Active Substance: CANDESARTAN
     Dosage: UNK
     Route: 048
  1011. CANDESARTAN [Concomitant]
     Active Substance: CANDESARTAN
     Dosage: 1 DF, 1X/DAY
  1012. CANDESARTAN [Concomitant]
     Active Substance: CANDESARTAN
     Dosage: 52 MG, 1X/DAY
     Route: 048
  1013. CANDESARTAN [Concomitant]
     Active Substance: CANDESARTAN
     Dosage: 1 DF, 1X/DAY
  1014. CANDESARTAN [Concomitant]
     Active Substance: CANDESARTAN
     Dosage: 52 MG, 1X/DAY
     Route: 048
  1015. TIOTROPIUM BROMIDE [Concomitant]
     Active Substance: TIOTROPIUM BROMIDE
  1016. PENICILLIN G [Concomitant]
     Active Substance: PENICILLIN G
     Dosage: UNK
  1017. AMOXICILLIN\CLAVULANATE POTASSIUM [Concomitant]
     Active Substance: AMOXICILLIN\CLAVULANATE POTASSIUM
     Dosage: UNK
  1018. JAMP VITAMIN D3 [Concomitant]
     Dosage: UNK
  1019. CALCIUM CARBONATE\MAGNESIUM CARBONATE\MAGNESIUM TRISILICATE [Concomitant]
     Active Substance: CALCIUM CARBONATE\MAGNESIUM CARBONATE\MAGNESIUM TRISILICATE
  1020. CUPRIC OXIDE\FOLIC ACID\NIACIN\ZINC OXIDE [Concomitant]
     Active Substance: CUPRIC OXIDE\FOLIC ACID\NIACIN\ZINC OXIDE
  1021. GLYSENNID [Concomitant]
     Active Substance: SENNA LEAF
  1022. RUPATADINE FUMARATE [Concomitant]
     Active Substance: RUPATADINE FUMARATE
  1023. AZITHROMYCIN [Concomitant]
     Active Substance: AZITHROMYCIN
  1024. CANDESARTAN CILEXETIL [Concomitant]
     Active Substance: CANDESARTAN CILEXETIL
  1025. MONTELUKAST SODIUM [Concomitant]
     Active Substance: MONTELUKAST SODIUM
  1026. PANTOPRAZOLE SODIUM [Concomitant]
     Active Substance: PANTOPRAZOLE SODIUM
  1027. METOPROLOL SUCCINATE [Concomitant]
     Active Substance: METOPROLOL SUCCINATE
     Indication: Product used for unknown indication

REACTIONS (32)
  - Haemoptysis [Fatal]
  - Loss of personal independence in daily activities [Fatal]
  - Neuritis [Fatal]
  - Neurological symptom [Fatal]
  - Obstructive airways disorder [Fatal]
  - Pain in extremity [Fatal]
  - Pulmonary alveolar haemorrhage [Fatal]
  - Pulmonary fibrosis [Fatal]
  - Pulmonary vasculitis [Fatal]
  - Sleep disorder due to a general medical condition [Fatal]
  - Vasculitis [Fatal]
  - Anxiety [Fatal]
  - Eosinophilic granulomatosis with polyangiitis [Fatal]
  - Therapeutic product effect incomplete [Fatal]
  - Full blood count abnormal [Fatal]
  - Hypothyroidism [Fatal]
  - Arteriosclerosis [Fatal]
  - Arteriosclerosis coronary artery [Fatal]
  - Conjunctivitis allergic [Fatal]
  - Dust allergy [Fatal]
  - Mite allergy [Fatal]
  - Mycotic allergy [Fatal]
  - Nodule [Fatal]
  - Normochromic normocytic anaemia [Fatal]
  - Pulmonary embolism [Fatal]
  - Thrombosis [Fatal]
  - Antineutrophil cytoplasmic antibody positive [Fatal]
  - Capillaritis [Fatal]
  - Condition aggravated [Fatal]
  - Skin exfoliation [Unknown]
  - Sleep disorder [Unknown]
  - Off label use [Unknown]
